FAERS Safety Report 25830732 (Version 1)
Quarter: 2025Q3

REPORT INFORMATION
  Report Type: Report from Study
  Country: CA (occurrence: CA)
  Receive Date: 20250922
  Receipt Date: 20250922
  Transmission Date: 20251021
  Serious: Yes (Life-Threatening, Hospitalization, Other)
  Sender: MYLAN
  Company Number: CA-PFIZER INC-202101405531

PATIENT
  Age: 72 Year
  Sex: Male
  Weight: 79 kg

DRUGS (1232)
  1. FLUTICASONE PROPIONATE\SALMETEROL XINAFOATE [Suspect]
     Active Substance: FLUTICASONE PROPIONATE\SALMETEROL XINAFOATE
     Indication: Product used for unknown indication
  2. FLUTICASONE PROPIONATE\SALMETEROL XINAFOATE [Suspect]
     Active Substance: FLUTICASONE PROPIONATE\SALMETEROL XINAFOATE
     Route: 065
  3. FLUTICASONE PROPIONATE\SALMETEROL XINAFOATE [Suspect]
     Active Substance: FLUTICASONE PROPIONATE\SALMETEROL XINAFOATE
     Route: 065
  4. FLUTICASONE PROPIONATE\SALMETEROL XINAFOATE [Suspect]
     Active Substance: FLUTICASONE PROPIONATE\SALMETEROL XINAFOATE
  5. LEVOTHYROXINE [Suspect]
     Active Substance: LEVOTHYROXINE
     Indication: Product used for unknown indication
  6. LEVOTHYROXINE [Suspect]
     Active Substance: LEVOTHYROXINE
     Route: 065
  7. LEVOTHYROXINE [Suspect]
     Active Substance: LEVOTHYROXINE
     Route: 065
  8. LEVOTHYROXINE [Suspect]
     Active Substance: LEVOTHYROXINE
  9. SERTRALINE [Suspect]
     Active Substance: SERTRALINE HYDROCHLORIDE
     Indication: Product used for unknown indication
  10. SERTRALINE [Suspect]
     Active Substance: SERTRALINE HYDROCHLORIDE
     Route: 065
  11. SERTRALINE [Suspect]
     Active Substance: SERTRALINE HYDROCHLORIDE
     Route: 065
  12. SERTRALINE [Suspect]
     Active Substance: SERTRALINE HYDROCHLORIDE
  13. DOXAZOSIN MESYLATE [Suspect]
     Active Substance: DOXAZOSIN MESYLATE
     Indication: Product used for unknown indication
  14. DOXAZOSIN MESYLATE [Suspect]
     Active Substance: DOXAZOSIN MESYLATE
  15. DOXAZOSIN MESYLATE [Suspect]
     Active Substance: DOXAZOSIN MESYLATE
     Route: 065
  16. DOXAZOSIN MESYLATE [Suspect]
     Active Substance: DOXAZOSIN MESYLATE
     Route: 065
  17. DOXAZOSIN MESYLATE [Suspect]
     Active Substance: DOXAZOSIN MESYLATE
  18. DOXAZOSIN MESYLATE [Suspect]
     Active Substance: DOXAZOSIN MESYLATE
  19. DOXAZOSIN MESYLATE [Suspect]
     Active Substance: DOXAZOSIN MESYLATE
     Route: 065
  20. DOXAZOSIN MESYLATE [Suspect]
     Active Substance: DOXAZOSIN MESYLATE
     Route: 065
  21. DOXAZOSIN MESYLATE [Suspect]
     Active Substance: DOXAZOSIN MESYLATE
  22. DOXAZOSIN MESYLATE [Suspect]
     Active Substance: DOXAZOSIN MESYLATE
     Route: 065
  23. DOXAZOSIN MESYLATE [Suspect]
     Active Substance: DOXAZOSIN MESYLATE
  24. DOXAZOSIN MESYLATE [Suspect]
     Active Substance: DOXAZOSIN MESYLATE
     Route: 065
  25. LEVOFLOXACIN [Suspect]
     Active Substance: LEVOFLOXACIN
     Indication: Product used for unknown indication
     Dosage: 500 MILLIGRAM, QD (1 EVERY 1 DAYS)
  26. LEVOFLOXACIN [Suspect]
     Active Substance: LEVOFLOXACIN
     Dosage: 500 MILLIGRAM, QD (1 EVERY 1 DAYS)
  27. LEVOFLOXACIN [Suspect]
     Active Substance: LEVOFLOXACIN
     Dosage: 500 MILLIGRAM, QD (1 EVERY 1 DAYS)
     Route: 065
  28. LEVOFLOXACIN [Suspect]
     Active Substance: LEVOFLOXACIN
     Dosage: 500 MILLIGRAM, QD (1 EVERY 1 DAYS)
     Route: 065
  29. LEVOFLOXACIN [Suspect]
     Active Substance: LEVOFLOXACIN
  30. LEVOFLOXACIN [Suspect]
     Active Substance: LEVOFLOXACIN
  31. LEVOFLOXACIN [Suspect]
     Active Substance: LEVOFLOXACIN
     Route: 065
  32. LEVOFLOXACIN [Suspect]
     Active Substance: LEVOFLOXACIN
     Route: 065
  33. DUTASTERIDE [Suspect]
     Active Substance: DUTASTERIDE
     Indication: Product used for unknown indication
     Dosage: 10 MILLIGRAM, QD (1 EVERY 1 DAYS)
  34. DUTASTERIDE [Suspect]
     Active Substance: DUTASTERIDE
     Dosage: 10 MILLIGRAM, QD (1 EVERY 1 DAYS)
  35. DUTASTERIDE [Suspect]
     Active Substance: DUTASTERIDE
     Dosage: 10 MILLIGRAM, QD (1 EVERY 1 DAYS)
     Route: 065
  36. DUTASTERIDE [Suspect]
     Active Substance: DUTASTERIDE
     Dosage: 10 MILLIGRAM, QD (1 EVERY 1 DAYS)
     Route: 065
  37. DUTASTERIDE [Suspect]
     Active Substance: DUTASTERIDE
  38. DUTASTERIDE [Suspect]
     Active Substance: DUTASTERIDE
  39. DUTASTERIDE [Suspect]
     Active Substance: DUTASTERIDE
     Route: 065
  40. DUTASTERIDE [Suspect]
     Active Substance: DUTASTERIDE
     Route: 065
  41. ESCITALOPRAM [Suspect]
     Active Substance: ESCITALOPRAM OXALATE
     Indication: Product used for unknown indication
     Dosage: 2 DOSAGE FORM, BID (2 DF, 2X/DAY)
  42. ESCITALOPRAM [Suspect]
     Active Substance: ESCITALOPRAM OXALATE
     Dosage: 2 DOSAGE FORM, BID (2 DF, 2X/DAY)
  43. ESCITALOPRAM [Suspect]
     Active Substance: ESCITALOPRAM OXALATE
     Dosage: 2 DOSAGE FORM, BID (2 DF, 2X/DAY)
     Route: 065
  44. ESCITALOPRAM [Suspect]
     Active Substance: ESCITALOPRAM OXALATE
     Dosage: 2 DOSAGE FORM, BID (2 DF, 2X/DAY)
     Route: 065
  45. ESCITALOPRAM [Suspect]
     Active Substance: ESCITALOPRAM OXALATE
     Dosage: 2 DOSAGE FORM, QD (1 EVERY 1 DAYS)
  46. ESCITALOPRAM [Suspect]
     Active Substance: ESCITALOPRAM OXALATE
     Dosage: 2 DOSAGE FORM, QD (1 EVERY 1 DAYS)
  47. ESCITALOPRAM [Suspect]
     Active Substance: ESCITALOPRAM OXALATE
     Dosage: 2 DOSAGE FORM, QD (1 EVERY 1 DAYS)
     Route: 065
  48. ESCITALOPRAM [Suspect]
     Active Substance: ESCITALOPRAM OXALATE
     Dosage: 2 DOSAGE FORM, QD (1 EVERY 1 DAYS)
     Route: 065
  49. ESCITALOPRAM [Suspect]
     Active Substance: ESCITALOPRAM OXALATE
     Dosage: 10 MILLIGRAM, QD (1 EVERY 1 DAYS)
  50. ESCITALOPRAM [Suspect]
     Active Substance: ESCITALOPRAM OXALATE
     Dosage: 10 MILLIGRAM, QD (1 EVERY 1 DAYS)
  51. ESCITALOPRAM [Suspect]
     Active Substance: ESCITALOPRAM OXALATE
     Dosage: 10 MILLIGRAM, QD (1 EVERY 1 DAYS)
     Route: 065
  52. ESCITALOPRAM [Suspect]
     Active Substance: ESCITALOPRAM OXALATE
     Dosage: 10 MILLIGRAM, QD (1 EVERY 1 DAYS)
     Route: 065
  53. ESCITALOPRAM [Suspect]
     Active Substance: ESCITALOPRAM OXALATE
     Dosage: 10 MILLIGRAM, BID (2 EVERY 1 DAYS)
  54. ESCITALOPRAM [Suspect]
     Active Substance: ESCITALOPRAM OXALATE
     Dosage: 10 MILLIGRAM, BID (2 EVERY 1 DAYS)
  55. ESCITALOPRAM [Suspect]
     Active Substance: ESCITALOPRAM OXALATE
     Dosage: 10 MILLIGRAM, BID (2 EVERY 1 DAYS)
     Route: 065
  56. ESCITALOPRAM [Suspect]
     Active Substance: ESCITALOPRAM OXALATE
     Dosage: 10 MILLIGRAM, BID (2 EVERY 1 DAYS)
     Route: 065
  57. ESCITALOPRAM [Suspect]
     Active Substance: ESCITALOPRAM OXALATE
  58. ESCITALOPRAM [Suspect]
     Active Substance: ESCITALOPRAM OXALATE
     Route: 065
  59. ESCITALOPRAM [Suspect]
     Active Substance: ESCITALOPRAM OXALATE
  60. ESCITALOPRAM [Suspect]
     Active Substance: ESCITALOPRAM OXALATE
     Route: 065
  61. DOXAZOSIN [Suspect]
     Active Substance: DOXAZOSIN MESYLATE
     Indication: Product used for unknown indication
  62. DOXAZOSIN [Suspect]
     Active Substance: DOXAZOSIN MESYLATE
     Route: 065
  63. DOXAZOSIN [Suspect]
     Active Substance: DOXAZOSIN MESYLATE
     Route: 065
  64. DOXAZOSIN [Suspect]
     Active Substance: DOXAZOSIN MESYLATE
  65. APIXABAN [Suspect]
     Active Substance: APIXABAN
     Indication: Product used for unknown indication
  66. APIXABAN [Suspect]
     Active Substance: APIXABAN
  67. APIXABAN [Suspect]
     Active Substance: APIXABAN
     Route: 065
  68. APIXABAN [Suspect]
     Active Substance: APIXABAN
     Route: 065
  69. APIXABAN [Suspect]
     Active Substance: APIXABAN
  70. APIXABAN [Suspect]
     Active Substance: APIXABAN
  71. APIXABAN [Suspect]
     Active Substance: APIXABAN
     Route: 065
  72. APIXABAN [Suspect]
     Active Substance: APIXABAN
     Route: 065
  73. AMOXICILLIN\CLAVULANATE POTASSIUM [Suspect]
     Active Substance: AMOXICILLIN\CLAVULANATE POTASSIUM
     Indication: Product used for unknown indication
  74. AMOXICILLIN\CLAVULANATE POTASSIUM [Suspect]
     Active Substance: AMOXICILLIN\CLAVULANATE POTASSIUM
     Route: 065
  75. AMOXICILLIN\CLAVULANATE POTASSIUM [Suspect]
     Active Substance: AMOXICILLIN\CLAVULANATE POTASSIUM
     Route: 065
  76. AMOXICILLIN\CLAVULANATE POTASSIUM [Suspect]
     Active Substance: AMOXICILLIN\CLAVULANATE POTASSIUM
  77. BUDESONIDE [Suspect]
     Active Substance: BUDESONIDE
     Indication: Product used for unknown indication
     Route: 048
  78. BUDESONIDE [Suspect]
     Active Substance: BUDESONIDE
  79. BUDESONIDE [Suspect]
     Active Substance: BUDESONIDE
  80. BUDESONIDE [Suspect]
     Active Substance: BUDESONIDE
     Route: 048
  81. BUDESONIDE [Suspect]
     Active Substance: BUDESONIDE
     Route: 065
  82. BUDESONIDE [Suspect]
     Active Substance: BUDESONIDE
  83. BUDESONIDE [Suspect]
     Active Substance: BUDESONIDE
  84. BUDESONIDE [Suspect]
     Active Substance: BUDESONIDE
     Route: 065
  85. BUDESONIDE [Suspect]
     Active Substance: BUDESONIDE
     Route: 055
  86. BUDESONIDE [Suspect]
     Active Substance: BUDESONIDE
     Route: 055
  87. BUDESONIDE [Suspect]
     Active Substance: BUDESONIDE
  88. BUDESONIDE [Suspect]
     Active Substance: BUDESONIDE
  89. CALCIUM CARBONATE\CHOLECALCIFEROL [Suspect]
     Active Substance: CALCIUM CARBONATE\CHOLECALCIFEROL
     Indication: Product used for unknown indication
  90. CALCIUM CARBONATE\CHOLECALCIFEROL [Suspect]
     Active Substance: CALCIUM CARBONATE\CHOLECALCIFEROL
  91. CALCIUM CARBONATE\CHOLECALCIFEROL [Suspect]
     Active Substance: CALCIUM CARBONATE\CHOLECALCIFEROL
     Route: 065
  92. CALCIUM CARBONATE\CHOLECALCIFEROL [Suspect]
     Active Substance: CALCIUM CARBONATE\CHOLECALCIFEROL
     Route: 065
  93. CALCIUM CARBONATE\CHOLECALCIFEROL [Suspect]
     Active Substance: CALCIUM CARBONATE\CHOLECALCIFEROL
  94. CALCIUM CARBONATE\CHOLECALCIFEROL [Suspect]
     Active Substance: CALCIUM CARBONATE\CHOLECALCIFEROL
  95. CALCIUM CARBONATE\CHOLECALCIFEROL [Suspect]
     Active Substance: CALCIUM CARBONATE\CHOLECALCIFEROL
     Route: 065
  96. CALCIUM CARBONATE\CHOLECALCIFEROL [Suspect]
     Active Substance: CALCIUM CARBONATE\CHOLECALCIFEROL
     Route: 065
  97. CICLESONIDE [Suspect]
     Active Substance: CICLESONIDE
     Indication: Product used for unknown indication
     Dosage: 15 MILLIGRAM, QD (1 EVERY 1 DAY)
  98. CICLESONIDE [Suspect]
     Active Substance: CICLESONIDE
     Dosage: 15 MILLIGRAM, QD (1 EVERY 1 DAY)
  99. CICLESONIDE [Suspect]
     Active Substance: CICLESONIDE
     Dosage: 15 MILLIGRAM, QD (1 EVERY 1 DAY)
     Route: 065
  100. CICLESONIDE [Suspect]
     Active Substance: CICLESONIDE
     Dosage: 15 MILLIGRAM, QD (1 EVERY 1 DAY)
     Route: 065
  101. CICLESONIDE [Suspect]
     Active Substance: CICLESONIDE
  102. CICLESONIDE [Suspect]
     Active Substance: CICLESONIDE
  103. CICLESONIDE [Suspect]
     Active Substance: CICLESONIDE
     Route: 065
  104. CICLESONIDE [Suspect]
     Active Substance: CICLESONIDE
     Route: 065
  105. CICLESONIDE [Suspect]
     Active Substance: CICLESONIDE
     Dosage: UNK, QD (1 EVERY 24 HOURS)
  106. CICLESONIDE [Suspect]
     Active Substance: CICLESONIDE
     Dosage: UNK, QD (1 EVERY 24 HOURS)
  107. CICLESONIDE [Suspect]
     Active Substance: CICLESONIDE
     Dosage: UNK, QD (1 EVERY 24 HOURS)
     Route: 065
  108. CICLESONIDE [Suspect]
     Active Substance: CICLESONIDE
     Dosage: UNK, QD (1 EVERY 24 HOURS)
     Route: 065
  109. CICLESONIDE [Suspect]
     Active Substance: CICLESONIDE
     Dosage: 15 MILLIGRAM, QD (1 EVERY 24 HOURS)
  110. CICLESONIDE [Suspect]
     Active Substance: CICLESONIDE
     Dosage: 15 MILLIGRAM, QD (1 EVERY 24 HOURS)
  111. CICLESONIDE [Suspect]
     Active Substance: CICLESONIDE
     Dosage: 15 MILLIGRAM, QD (1 EVERY 24 HOURS)
     Route: 065
  112. CICLESONIDE [Suspect]
     Active Substance: CICLESONIDE
     Dosage: 15 MILLIGRAM, QD (1 EVERY 24 HOURS)
     Route: 065
  113. CICLESONIDE [Suspect]
     Active Substance: CICLESONIDE
  114. CICLESONIDE [Suspect]
     Active Substance: CICLESONIDE
     Route: 065
  115. CICLESONIDE [Suspect]
     Active Substance: CICLESONIDE
  116. CICLESONIDE [Suspect]
     Active Substance: CICLESONIDE
     Route: 065
  117. ZENHALE [Suspect]
     Active Substance: FORMOTEROL FUMARATE\MOMETASONE FUROATE
     Indication: Product used for unknown indication
     Dosage: 500 MILLIGRAM, QD (1 EVERY 1 DAYS)
     Route: 065
  118. ZENHALE [Suspect]
     Active Substance: FORMOTEROL FUMARATE\MOMETASONE FUROATE
     Dosage: 500 MILLIGRAM, QD (1 EVERY 1 DAYS)
  119. ZENHALE [Suspect]
     Active Substance: FORMOTEROL FUMARATE\MOMETASONE FUROATE
     Dosage: 500 MILLIGRAM, QD (1 EVERY 1 DAYS)
  120. ZENHALE [Suspect]
     Active Substance: FORMOTEROL FUMARATE\MOMETASONE FUROATE
     Dosage: 500 MILLIGRAM, QD (1 EVERY 1 DAYS)
     Route: 065
  121. ZENHALE [Suspect]
     Active Substance: FORMOTEROL FUMARATE\MOMETASONE FUROATE
     Route: 065
  122. ZENHALE [Suspect]
     Active Substance: FORMOTEROL FUMARATE\MOMETASONE FUROATE
  123. ZENHALE [Suspect]
     Active Substance: FORMOTEROL FUMARATE\MOMETASONE FUROATE
  124. ZENHALE [Suspect]
     Active Substance: FORMOTEROL FUMARATE\MOMETASONE FUROATE
     Route: 065
  125. ZENHALE [Suspect]
     Active Substance: FORMOTEROL FUMARATE\MOMETASONE FUROATE
  126. ZENHALE [Suspect]
     Active Substance: FORMOTEROL FUMARATE\MOMETASONE FUROATE
  127. ZENHALE [Suspect]
     Active Substance: FORMOTEROL FUMARATE\MOMETASONE FUROATE
     Route: 065
  128. ZENHALE [Suspect]
     Active Substance: FORMOTEROL FUMARATE\MOMETASONE FUROATE
     Route: 065
  129. ZENHALE [Suspect]
     Active Substance: FORMOTEROL FUMARATE\MOMETASONE FUROATE
     Dosage: 2 DOSAGE FORM, BID (1 EVERY 12 HOURS)
     Route: 065
  130. ZENHALE [Suspect]
     Active Substance: FORMOTEROL FUMARATE\MOMETASONE FUROATE
     Dosage: 2 DOSAGE FORM, BID (1 EVERY 12 HOURS)
     Route: 065
  131. ZENHALE [Suspect]
     Active Substance: FORMOTEROL FUMARATE\MOMETASONE FUROATE
     Dosage: 2 DOSAGE FORM, BID (1 EVERY 12 HOURS)
  132. ZENHALE [Suspect]
     Active Substance: FORMOTEROL FUMARATE\MOMETASONE FUROATE
     Dosage: 2 DOSAGE FORM, BID (1 EVERY 12 HOURS)
  133. ZENHALE [Suspect]
     Active Substance: FORMOTEROL FUMARATE\MOMETASONE FUROATE
     Dosage: 2 DOSAGE FORM, BID (1 EVERY 12 HOURS)
  134. ZENHALE [Suspect]
     Active Substance: FORMOTEROL FUMARATE\MOMETASONE FUROATE
     Dosage: 2 DOSAGE FORM, BID (1 EVERY 12 HOURS)
  135. ZENHALE [Suspect]
     Active Substance: FORMOTEROL FUMARATE\MOMETASONE FUROATE
     Dosage: 2 DOSAGE FORM, BID (1 EVERY 12 HOURS)
     Route: 065
  136. ZENHALE [Suspect]
     Active Substance: FORMOTEROL FUMARATE\MOMETASONE FUROATE
     Dosage: 2 DOSAGE FORM, BID (1 EVERY 12 HOURS)
     Route: 065
  137. ZENHALE [Suspect]
     Active Substance: FORMOTEROL FUMARATE\MOMETASONE FUROATE
     Route: 065
  138. ZENHALE [Suspect]
     Active Substance: FORMOTEROL FUMARATE\MOMETASONE FUROATE
     Route: 065
  139. ZENHALE [Suspect]
     Active Substance: FORMOTEROL FUMARATE\MOMETASONE FUROATE
  140. ZENHALE [Suspect]
     Active Substance: FORMOTEROL FUMARATE\MOMETASONE FUROATE
  141. ZENHALE [Suspect]
     Active Substance: FORMOTEROL FUMARATE\MOMETASONE FUROATE
     Route: 065
  142. ZENHALE [Suspect]
     Active Substance: FORMOTEROL FUMARATE\MOMETASONE FUROATE
     Route: 065
  143. ZENHALE [Suspect]
     Active Substance: FORMOTEROL FUMARATE\MOMETASONE FUROATE
  144. ZENHALE [Suspect]
     Active Substance: FORMOTEROL FUMARATE\MOMETASONE FUROATE
  145. ZENHALE [Suspect]
     Active Substance: FORMOTEROL FUMARATE\MOMETASONE FUROATE
     Dosage: 10 MILLIGRAM, BID (1 EVERY 12 HOURS)
     Route: 065
  146. ZENHALE [Suspect]
     Active Substance: FORMOTEROL FUMARATE\MOMETASONE FUROATE
     Dosage: 10 MILLIGRAM, BID (1 EVERY 12 HOURS)
  147. ZENHALE [Suspect]
     Active Substance: FORMOTEROL FUMARATE\MOMETASONE FUROATE
     Dosage: 10 MILLIGRAM, BID (1 EVERY 12 HOURS)
  148. ZENHALE [Suspect]
     Active Substance: FORMOTEROL FUMARATE\MOMETASONE FUROATE
     Dosage: 10 MILLIGRAM, BID (1 EVERY 12 HOURS)
     Route: 065
  149. ZENHALE [Suspect]
     Active Substance: FORMOTEROL FUMARATE\MOMETASONE FUROATE
     Route: 065
  150. ZENHALE [Suspect]
     Active Substance: FORMOTEROL FUMARATE\MOMETASONE FUROATE
     Route: 065
  151. ZENHALE [Suspect]
     Active Substance: FORMOTEROL FUMARATE\MOMETASONE FUROATE
  152. ZENHALE [Suspect]
     Active Substance: FORMOTEROL FUMARATE\MOMETASONE FUROATE
  153. ZENHALE [Suspect]
     Active Substance: FORMOTEROL FUMARATE\MOMETASONE FUROATE
     Dosage: 4 DOSAGE FORM, QD (1 EVERY 1 DAYS)
  154. ZENHALE [Suspect]
     Active Substance: FORMOTEROL FUMARATE\MOMETASONE FUROATE
     Dosage: 4 DOSAGE FORM, QD (1 EVERY 1 DAYS)
  155. ZENHALE [Suspect]
     Active Substance: FORMOTEROL FUMARATE\MOMETASONE FUROATE
     Dosage: 4 DOSAGE FORM, QD (1 EVERY 1 DAYS)
     Route: 065
  156. ZENHALE [Suspect]
     Active Substance: FORMOTEROL FUMARATE\MOMETASONE FUROATE
     Dosage: 4 DOSAGE FORM, QD (1 EVERY 1 DAYS)
     Route: 065
  157. MOXIFLOXACIN HYDROCHLORIDE [Suspect]
     Active Substance: MOXIFLOXACIN HYDROCHLORIDE
     Indication: Product used for unknown indication
  158. MOXIFLOXACIN HYDROCHLORIDE [Suspect]
     Active Substance: MOXIFLOXACIN HYDROCHLORIDE
  159. MOXIFLOXACIN HYDROCHLORIDE [Suspect]
     Active Substance: MOXIFLOXACIN HYDROCHLORIDE
     Route: 065
  160. MOXIFLOXACIN HYDROCHLORIDE [Suspect]
     Active Substance: MOXIFLOXACIN HYDROCHLORIDE
     Route: 065
  161. MOXIFLOXACIN HYDROCHLORIDE [Suspect]
     Active Substance: MOXIFLOXACIN HYDROCHLORIDE
     Dosage: 500 MILLIGRAM, QD (1 EVERY 1 DAYS)
  162. MOXIFLOXACIN HYDROCHLORIDE [Suspect]
     Active Substance: MOXIFLOXACIN HYDROCHLORIDE
     Dosage: 500 MILLIGRAM, QD (1 EVERY 1 DAYS)
  163. MOXIFLOXACIN HYDROCHLORIDE [Suspect]
     Active Substance: MOXIFLOXACIN HYDROCHLORIDE
     Dosage: 500 MILLIGRAM, QD (1 EVERY 1 DAYS)
     Route: 065
  164. MOXIFLOXACIN HYDROCHLORIDE [Suspect]
     Active Substance: MOXIFLOXACIN HYDROCHLORIDE
     Dosage: 500 MILLIGRAM, QD (1 EVERY 1 DAYS)
     Route: 065
  165. MOXIFLOXACIN HYDROCHLORIDE [Suspect]
     Active Substance: MOXIFLOXACIN HYDROCHLORIDE
     Dosage: 15 MILLIGRAM, QD (1 EVERY 1 DAYS)
  166. MOXIFLOXACIN HYDROCHLORIDE [Suspect]
     Active Substance: MOXIFLOXACIN HYDROCHLORIDE
     Dosage: 15 MILLIGRAM, QD (1 EVERY 1 DAYS)
     Route: 065
  167. MOXIFLOXACIN HYDROCHLORIDE [Suspect]
     Active Substance: MOXIFLOXACIN HYDROCHLORIDE
     Dosage: 15 MILLIGRAM, QD (1 EVERY 1 DAYS)
  168. MOXIFLOXACIN HYDROCHLORIDE [Suspect]
     Active Substance: MOXIFLOXACIN HYDROCHLORIDE
     Dosage: 15 MILLIGRAM, QD (1 EVERY 1 DAYS)
     Route: 065
  169. PREDNISONE [Suspect]
     Active Substance: PREDNISONE
     Indication: Product used for unknown indication
     Dosage: 15 MILLIGRAM, QD
  170. PREDNISONE [Suspect]
     Active Substance: PREDNISONE
     Dosage: 15 MILLIGRAM, QD
  171. PREDNISONE [Suspect]
     Active Substance: PREDNISONE
     Dosage: 15 MILLIGRAM, QD
     Route: 065
  172. PREDNISONE [Suspect]
     Active Substance: PREDNISONE
     Dosage: 15 MILLIGRAM, QD
     Route: 065
  173. PREDNISONE [Suspect]
     Active Substance: PREDNISONE
     Route: 065
  174. PREDNISONE [Suspect]
     Active Substance: PREDNISONE
     Route: 065
  175. PREDNISONE [Suspect]
     Active Substance: PREDNISONE
  176. PREDNISONE [Suspect]
     Active Substance: PREDNISONE
  177. PREDNISONE [Suspect]
     Active Substance: PREDNISONE
     Dosage: 10 MILLIGRAM, QD (1 EVERY 1 DAYS, 1 EVERY 24 HOURS)
     Route: 065
  178. PREDNISONE [Suspect]
     Active Substance: PREDNISONE
     Dosage: 10 MILLIGRAM, QD (1 EVERY 1 DAYS, 1 EVERY 24 HOURS)
     Route: 065
  179. PREDNISONE [Suspect]
     Active Substance: PREDNISONE
     Dosage: 10 MILLIGRAM, QD (1 EVERY 1 DAYS, 1 EVERY 24 HOURS)
  180. PREDNISONE [Suspect]
     Active Substance: PREDNISONE
     Dosage: 10 MILLIGRAM, QD (1 EVERY 1 DAYS, 1 EVERY 24 HOURS)
  181. PREDNISONE [Suspect]
     Active Substance: PREDNISONE
     Route: 065
  182. PREDNISONE [Suspect]
     Active Substance: PREDNISONE
     Route: 065
  183. PREDNISONE [Suspect]
     Active Substance: PREDNISONE
  184. PREDNISONE [Suspect]
     Active Substance: PREDNISONE
  185. PREDNISONE [Suspect]
     Active Substance: PREDNISONE
     Route: 065
  186. PREDNISONE [Suspect]
     Active Substance: PREDNISONE
  187. PREDNISONE [Suspect]
     Active Substance: PREDNISONE
  188. PREDNISONE [Suspect]
     Active Substance: PREDNISONE
     Route: 065
  189. PREDNISONE [Suspect]
     Active Substance: PREDNISONE
     Route: 065
  190. PREDNISONE [Suspect]
     Active Substance: PREDNISONE
     Route: 065
  191. PREDNISONE [Suspect]
     Active Substance: PREDNISONE
  192. PREDNISONE [Suspect]
     Active Substance: PREDNISONE
  193. PREDNISONE [Suspect]
     Active Substance: PREDNISONE
     Dosage: 1 DOSAGE FORM, QD (1 EVERY 1 DAYS)
  194. PREDNISONE [Suspect]
     Active Substance: PREDNISONE
     Dosage: 1 DOSAGE FORM, QD (1 EVERY 1 DAYS)
  195. PREDNISONE [Suspect]
     Active Substance: PREDNISONE
     Dosage: 1 DOSAGE FORM, QD (1 EVERY 1 DAYS)
     Route: 065
  196. PREDNISONE [Suspect]
     Active Substance: PREDNISONE
     Dosage: 1 DOSAGE FORM, QD (1 EVERY 1 DAYS)
     Route: 065
  197. PREDNISONE [Suspect]
     Active Substance: PREDNISONE
     Dosage: 50 MILLIGRAM, QD (1 EVERY 1 DAYS)
     Route: 065
  198. PREDNISONE [Suspect]
     Active Substance: PREDNISONE
     Dosage: 50 MILLIGRAM, QD (1 EVERY 1 DAYS)
  199. PREDNISONE [Suspect]
     Active Substance: PREDNISONE
     Dosage: 50 MILLIGRAM, QD (1 EVERY 1 DAYS)
  200. PREDNISONE [Suspect]
     Active Substance: PREDNISONE
     Dosage: 50 MILLIGRAM, QD (1 EVERY 1 DAYS)
     Route: 065
  201. PREDNISONE [Suspect]
     Active Substance: PREDNISONE
     Dosage: UNK, QD (1 EVERY 1 DAYS)
     Route: 065
  202. PREDNISONE [Suspect]
     Active Substance: PREDNISONE
     Dosage: UNK, QD (1 EVERY 1 DAYS)
     Route: 065
  203. PREDNISONE [Suspect]
     Active Substance: PREDNISONE
     Dosage: UNK, QD (1 EVERY 1 DAYS)
  204. PREDNISONE [Suspect]
     Active Substance: PREDNISONE
     Dosage: UNK, QD (1 EVERY 1 DAYS)
  205. SPIRIVA [Suspect]
     Active Substance: TIOTROPIUM BROMIDE MONOHYDRATE
     Indication: Product used for unknown indication
     Dosage: 2 DOSAGE FORM, QD
     Route: 065
  206. SPIRIVA [Suspect]
     Active Substance: TIOTROPIUM BROMIDE MONOHYDRATE
     Dosage: 2 DOSAGE FORM, QD
  207. SPIRIVA [Suspect]
     Active Substance: TIOTROPIUM BROMIDE MONOHYDRATE
     Dosage: 2 DOSAGE FORM, QD
  208. SPIRIVA [Suspect]
     Active Substance: TIOTROPIUM BROMIDE MONOHYDRATE
     Dosage: 2 DOSAGE FORM, QD
     Route: 065
  209. SPIRIVA [Suspect]
     Active Substance: TIOTROPIUM BROMIDE MONOHYDRATE
     Route: 065
  210. SPIRIVA [Suspect]
     Active Substance: TIOTROPIUM BROMIDE MONOHYDRATE
  211. SPIRIVA [Suspect]
     Active Substance: TIOTROPIUM BROMIDE MONOHYDRATE
  212. SPIRIVA [Suspect]
     Active Substance: TIOTROPIUM BROMIDE MONOHYDRATE
     Route: 065
  213. SPIRIVA [Suspect]
     Active Substance: TIOTROPIUM BROMIDE MONOHYDRATE
     Route: 065
  214. SPIRIVA [Suspect]
     Active Substance: TIOTROPIUM BROMIDE MONOHYDRATE
     Route: 065
  215. SPIRIVA [Suspect]
     Active Substance: TIOTROPIUM BROMIDE MONOHYDRATE
  216. SPIRIVA [Suspect]
     Active Substance: TIOTROPIUM BROMIDE MONOHYDRATE
  217. DILTIAZEM [Suspect]
     Active Substance: DILTIAZEM
     Indication: Product used for unknown indication
  218. DILTIAZEM [Suspect]
     Active Substance: DILTIAZEM
  219. DILTIAZEM [Suspect]
     Active Substance: DILTIAZEM
     Route: 065
  220. DILTIAZEM [Suspect]
     Active Substance: DILTIAZEM
     Route: 065
  221. DILTIAZEM [Suspect]
     Active Substance: DILTIAZEM
  222. DILTIAZEM [Suspect]
     Active Substance: DILTIAZEM
  223. DILTIAZEM [Suspect]
     Active Substance: DILTIAZEM
     Route: 065
  224. DILTIAZEM [Suspect]
     Active Substance: DILTIAZEM
     Route: 065
  225. DILTIAZEM [Suspect]
     Active Substance: DILTIAZEM
  226. DILTIAZEM [Suspect]
     Active Substance: DILTIAZEM
     Route: 065
  227. DILTIAZEM [Suspect]
     Active Substance: DILTIAZEM
  228. DILTIAZEM [Suspect]
     Active Substance: DILTIAZEM
     Route: 065
  229. ALBUTEROL SULFATE [Suspect]
     Active Substance: ALBUTEROL SULFATE
     Indication: Asthma
     Dosage: 2 DOSAGE FORM, QD (1 EVERY 1 DAYS)
  230. ALBUTEROL SULFATE [Suspect]
     Active Substance: ALBUTEROL SULFATE
     Dosage: 2 DOSAGE FORM, QD (1 EVERY 1 DAYS)
  231. ALBUTEROL SULFATE [Suspect]
     Active Substance: ALBUTEROL SULFATE
     Dosage: 2 DOSAGE FORM, QD (1 EVERY 1 DAYS)
     Route: 065
  232. ALBUTEROL SULFATE [Suspect]
     Active Substance: ALBUTEROL SULFATE
     Dosage: 2 DOSAGE FORM, QD (1 EVERY 1 DAYS)
     Route: 065
  233. ALBUTEROL SULFATE [Suspect]
     Active Substance: ALBUTEROL SULFATE
  234. ALBUTEROL SULFATE [Suspect]
     Active Substance: ALBUTEROL SULFATE
  235. ALBUTEROL SULFATE [Suspect]
     Active Substance: ALBUTEROL SULFATE
     Route: 065
  236. ALBUTEROL SULFATE [Suspect]
     Active Substance: ALBUTEROL SULFATE
     Route: 065
  237. ALBUTEROL SULFATE [Suspect]
     Active Substance: ALBUTEROL SULFATE
     Dosage: UNK, QD (1 EVERY 1 DAY)
  238. ALBUTEROL SULFATE [Suspect]
     Active Substance: ALBUTEROL SULFATE
     Dosage: UNK, QD (1 EVERY 1 DAY)
     Route: 065
  239. ALBUTEROL SULFATE [Suspect]
     Active Substance: ALBUTEROL SULFATE
     Dosage: UNK, QD (1 EVERY 1 DAY)
  240. ALBUTEROL SULFATE [Suspect]
     Active Substance: ALBUTEROL SULFATE
     Dosage: UNK, QD (1 EVERY 1 DAY)
     Route: 065
  241. ERGOCALCIFEROL [Suspect]
     Active Substance: ERGOCALCIFEROL
     Indication: Product used for unknown indication
  242. ERGOCALCIFEROL [Suspect]
     Active Substance: ERGOCALCIFEROL
  243. ERGOCALCIFEROL [Suspect]
     Active Substance: ERGOCALCIFEROL
     Route: 065
  244. ERGOCALCIFEROL [Suspect]
     Active Substance: ERGOCALCIFEROL
     Route: 065
  245. ERGOCALCIFEROL [Suspect]
     Active Substance: ERGOCALCIFEROL
  246. ERGOCALCIFEROL [Suspect]
     Active Substance: ERGOCALCIFEROL
  247. ERGOCALCIFEROL [Suspect]
     Active Substance: ERGOCALCIFEROL
     Route: 065
  248. ERGOCALCIFEROL [Suspect]
     Active Substance: ERGOCALCIFEROL
     Route: 065
  249. ALBUTEROL SULFATE [Suspect]
     Active Substance: ALBUTEROL SULFATE
     Indication: Asthma
  250. ALBUTEROL SULFATE [Suspect]
     Active Substance: ALBUTEROL SULFATE
  251. ALBUTEROL SULFATE [Suspect]
     Active Substance: ALBUTEROL SULFATE
     Route: 065
  252. ALBUTEROL SULFATE [Suspect]
     Active Substance: ALBUTEROL SULFATE
     Route: 065
  253. ALBUTEROL SULFATE [Suspect]
     Active Substance: ALBUTEROL SULFATE
     Dosage: 2 DOSAGE FORM, QD
  254. ALBUTEROL SULFATE [Suspect]
     Active Substance: ALBUTEROL SULFATE
     Dosage: 2 DOSAGE FORM, QD
  255. ALBUTEROL SULFATE [Suspect]
     Active Substance: ALBUTEROL SULFATE
     Dosage: 2 DOSAGE FORM, QD
     Route: 065
  256. ALBUTEROL SULFATE [Suspect]
     Active Substance: ALBUTEROL SULFATE
     Dosage: 2 DOSAGE FORM, QD
     Route: 065
  257. OMNARIS [Suspect]
     Active Substance: CICLESONIDE
     Indication: Product used for unknown indication
     Dosage: 15 MILLIGRAM, QD (1 EVERY 1 DAY)
  258. OMNARIS [Suspect]
     Active Substance: CICLESONIDE
     Dosage: 15 MILLIGRAM, QD (1 EVERY 1 DAY)
  259. OMNARIS [Suspect]
     Active Substance: CICLESONIDE
     Dosage: 15 MILLIGRAM, QD (1 EVERY 1 DAY)
     Route: 065
  260. OMNARIS [Suspect]
     Active Substance: CICLESONIDE
     Dosage: 15 MILLIGRAM, QD (1 EVERY 1 DAY)
     Route: 065
  261. OMNARIS [Suspect]
     Active Substance: CICLESONIDE
  262. OMNARIS [Suspect]
     Active Substance: CICLESONIDE
  263. OMNARIS [Suspect]
     Active Substance: CICLESONIDE
     Route: 055
  264. OMNARIS [Suspect]
     Active Substance: CICLESONIDE
     Route: 055
  265. OMNARIS [Suspect]
     Active Substance: CICLESONIDE
     Dosage: 15 MILLIGRAM, QD (1 EVERY 1 DAY)
  266. OMNARIS [Suspect]
     Active Substance: CICLESONIDE
     Dosage: 15 MILLIGRAM, QD (1 EVERY 1 DAY)
  267. OMNARIS [Suspect]
     Active Substance: CICLESONIDE
     Dosage: 15 MILLIGRAM, QD (1 EVERY 1 DAY)
     Route: 055
  268. OMNARIS [Suspect]
     Active Substance: CICLESONIDE
     Dosage: 15 MILLIGRAM, QD (1 EVERY 1 DAY)
     Route: 055
  269. OMNARIS [Suspect]
     Active Substance: CICLESONIDE
  270. OMNARIS [Suspect]
     Active Substance: CICLESONIDE
  271. OMNARIS [Suspect]
     Active Substance: CICLESONIDE
     Route: 065
  272. OMNARIS [Suspect]
     Active Substance: CICLESONIDE
     Route: 065
  273. OMNARIS [Suspect]
     Active Substance: CICLESONIDE
  274. OMNARIS [Suspect]
     Active Substance: CICLESONIDE
     Route: 055
  275. OMNARIS [Suspect]
     Active Substance: CICLESONIDE
  276. OMNARIS [Suspect]
     Active Substance: CICLESONIDE
     Route: 055
  277. TIAZAC [Suspect]
     Active Substance: DILTIAZEM HYDROCHLORIDE
     Indication: Product used for unknown indication
     Route: 065
  278. TIAZAC [Suspect]
     Active Substance: DILTIAZEM HYDROCHLORIDE
  279. TIAZAC [Suspect]
     Active Substance: DILTIAZEM HYDROCHLORIDE
  280. TIAZAC [Suspect]
     Active Substance: DILTIAZEM HYDROCHLORIDE
     Route: 065
  281. TIAZAC [Suspect]
     Active Substance: DILTIAZEM HYDROCHLORIDE
     Dosage: 15 MILLIGRAM, QD (1 EVERY 1 DAY)
     Route: 065
  282. TIAZAC [Suspect]
     Active Substance: DILTIAZEM HYDROCHLORIDE
     Dosage: 15 MILLIGRAM, QD (1 EVERY 1 DAY)
  283. TIAZAC [Suspect]
     Active Substance: DILTIAZEM HYDROCHLORIDE
     Dosage: 15 MILLIGRAM, QD (1 EVERY 1 DAY)
  284. TIAZAC [Suspect]
     Active Substance: DILTIAZEM HYDROCHLORIDE
     Dosage: 15 MILLIGRAM, QD (1 EVERY 1 DAY)
     Route: 065
  285. TIAZAC [Suspect]
     Active Substance: DILTIAZEM HYDROCHLORIDE
  286. TIAZAC [Suspect]
     Active Substance: DILTIAZEM HYDROCHLORIDE
  287. TIAZAC [Suspect]
     Active Substance: DILTIAZEM HYDROCHLORIDE
     Route: 065
  288. TIAZAC [Suspect]
     Active Substance: DILTIAZEM HYDROCHLORIDE
     Route: 065
  289. TIAZAC [Suspect]
     Active Substance: DILTIAZEM HYDROCHLORIDE
  290. TIAZAC [Suspect]
     Active Substance: DILTIAZEM HYDROCHLORIDE
  291. TIAZAC [Suspect]
     Active Substance: DILTIAZEM HYDROCHLORIDE
     Route: 065
  292. TIAZAC [Suspect]
     Active Substance: DILTIAZEM HYDROCHLORIDE
     Route: 065
  293. FORMOTEROL FUMARATE\MOMETASONE FUROATE [Suspect]
     Active Substance: FORMOTEROL FUMARATE\MOMETASONE FUROATE
     Indication: Product used for unknown indication
     Dosage: 500 MILLIGRAM, QD
  294. FORMOTEROL FUMARATE\MOMETASONE FUROATE [Suspect]
     Active Substance: FORMOTEROL FUMARATE\MOMETASONE FUROATE
     Dosage: 500 MILLIGRAM, QD
  295. FORMOTEROL FUMARATE\MOMETASONE FUROATE [Suspect]
     Active Substance: FORMOTEROL FUMARATE\MOMETASONE FUROATE
     Dosage: 500 MILLIGRAM, QD
     Route: 065
  296. FORMOTEROL FUMARATE\MOMETASONE FUROATE [Suspect]
     Active Substance: FORMOTEROL FUMARATE\MOMETASONE FUROATE
     Dosage: 500 MILLIGRAM, QD
     Route: 065
  297. FORMOTEROL FUMARATE\MOMETASONE FUROATE [Suspect]
     Active Substance: FORMOTEROL FUMARATE\MOMETASONE FUROATE
     Dosage: 2 DOSAGE FORM, BID
  298. FORMOTEROL FUMARATE\MOMETASONE FUROATE [Suspect]
     Active Substance: FORMOTEROL FUMARATE\MOMETASONE FUROATE
     Dosage: 2 DOSAGE FORM, BID
  299. FORMOTEROL FUMARATE\MOMETASONE FUROATE [Suspect]
     Active Substance: FORMOTEROL FUMARATE\MOMETASONE FUROATE
     Dosage: 2 DOSAGE FORM, BID
     Route: 065
  300. FORMOTEROL FUMARATE\MOMETASONE FUROATE [Suspect]
     Active Substance: FORMOTEROL FUMARATE\MOMETASONE FUROATE
     Dosage: 2 DOSAGE FORM, BID
     Route: 065
  301. FORMOTEROL FUMARATE\MOMETASONE FUROATE [Suspect]
     Active Substance: FORMOTEROL FUMARATE\MOMETASONE FUROATE
  302. FORMOTEROL FUMARATE\MOMETASONE FUROATE [Suspect]
     Active Substance: FORMOTEROL FUMARATE\MOMETASONE FUROATE
     Route: 065
  303. FORMOTEROL FUMARATE\MOMETASONE FUROATE [Suspect]
     Active Substance: FORMOTEROL FUMARATE\MOMETASONE FUROATE
  304. FORMOTEROL FUMARATE\MOMETASONE FUROATE [Suspect]
     Active Substance: FORMOTEROL FUMARATE\MOMETASONE FUROATE
     Route: 065
  305. ROSUVASTATIN CALCIUM [Concomitant]
     Active Substance: ROSUVASTATIN CALCIUM
     Indication: Product used for unknown indication
     Dosage: 15 MILLIGRAM, QD
  306. ROSUVASTATIN CALCIUM [Concomitant]
     Active Substance: ROSUVASTATIN CALCIUM
     Dosage: 15 MILLIGRAM, QD
  307. ROSUVASTATIN CALCIUM [Concomitant]
     Active Substance: ROSUVASTATIN CALCIUM
     Dosage: 15 MILLIGRAM, QD
     Route: 065
  308. ROSUVASTATIN CALCIUM [Concomitant]
     Active Substance: ROSUVASTATIN CALCIUM
     Dosage: 15 MILLIGRAM, QD
     Route: 065
  309. ROSUVASTATIN CALCIUM [Concomitant]
     Active Substance: ROSUVASTATIN CALCIUM
  310. ROSUVASTATIN CALCIUM [Concomitant]
     Active Substance: ROSUVASTATIN CALCIUM
  311. ROSUVASTATIN CALCIUM [Concomitant]
     Active Substance: ROSUVASTATIN CALCIUM
     Route: 065
  312. ROSUVASTATIN CALCIUM [Concomitant]
     Active Substance: ROSUVASTATIN CALCIUM
     Route: 065
  313. ROSUVASTATIN CALCIUM [Concomitant]
     Active Substance: ROSUVASTATIN CALCIUM
  314. ROSUVASTATIN CALCIUM [Concomitant]
     Active Substance: ROSUVASTATIN CALCIUM
     Route: 065
  315. ROSUVASTATIN CALCIUM [Concomitant]
     Active Substance: ROSUVASTATIN CALCIUM
  316. ROSUVASTATIN CALCIUM [Concomitant]
     Active Substance: ROSUVASTATIN CALCIUM
     Route: 065
  317. TIOTROPIUM BROMIDE [Concomitant]
     Active Substance: TIOTROPIUM BROMIDE
     Indication: Product used for unknown indication
  318. TIOTROPIUM BROMIDE [Concomitant]
     Active Substance: TIOTROPIUM BROMIDE
     Route: 065
  319. TIOTROPIUM BROMIDE [Concomitant]
     Active Substance: TIOTROPIUM BROMIDE
     Route: 065
  320. TIOTROPIUM BROMIDE [Concomitant]
     Active Substance: TIOTROPIUM BROMIDE
  321. DOXAZOSIN MESYLATE [Concomitant]
     Active Substance: DOXAZOSIN MESYLATE
     Indication: Product used for unknown indication
  322. DOXAZOSIN MESYLATE [Concomitant]
     Active Substance: DOXAZOSIN MESYLATE
     Route: 065
  323. DOXAZOSIN MESYLATE [Concomitant]
     Active Substance: DOXAZOSIN MESYLATE
     Route: 065
  324. DOXAZOSIN MESYLATE [Concomitant]
     Active Substance: DOXAZOSIN MESYLATE
  325. ADVAIR HFA [Suspect]
     Active Substance: FLUTICASONE PROPIONATE\SALMETEROL XINAFOATE
     Indication: Product used for unknown indication
     Dosage: 500 MILLIGRAM, QD (1 EVERY 1 DAY)
  326. ADVAIR HFA [Suspect]
     Active Substance: FLUTICASONE PROPIONATE\SALMETEROL XINAFOATE
     Dosage: 500 MILLIGRAM, QD (1 EVERY 1 DAY)
  327. ADVAIR HFA [Suspect]
     Active Substance: FLUTICASONE PROPIONATE\SALMETEROL XINAFOATE
     Dosage: 500 MILLIGRAM, QD (1 EVERY 1 DAY)
     Route: 065
  328. ADVAIR HFA [Suspect]
     Active Substance: FLUTICASONE PROPIONATE\SALMETEROL XINAFOATE
     Dosage: 500 MILLIGRAM, QD (1 EVERY 1 DAY)
     Route: 065
  329. ADVAIR HFA [Suspect]
     Active Substance: FLUTICASONE PROPIONATE\SALMETEROL XINAFOATE
  330. ADVAIR HFA [Suspect]
     Active Substance: FLUTICASONE PROPIONATE\SALMETEROL XINAFOATE
  331. ADVAIR HFA [Suspect]
     Active Substance: FLUTICASONE PROPIONATE\SALMETEROL XINAFOATE
     Route: 065
  332. ADVAIR HFA [Suspect]
     Active Substance: FLUTICASONE PROPIONATE\SALMETEROL XINAFOATE
     Route: 065
  333. AMOXICILLIN [Suspect]
     Active Substance: AMOXICILLIN
     Indication: Product used for unknown indication
  334. AMOXICILLIN [Suspect]
     Active Substance: AMOXICILLIN
     Route: 065
  335. AMOXICILLIN [Suspect]
     Active Substance: AMOXICILLIN
     Route: 065
  336. AMOXICILLIN [Suspect]
     Active Substance: AMOXICILLIN
  337. ALBUTEROL [Suspect]
     Active Substance: ALBUTEROL
     Indication: Eosinophilic granulomatosis with polyangiitis
  338. ALBUTEROL [Suspect]
     Active Substance: ALBUTEROL
     Route: 065
  339. ALBUTEROL [Suspect]
     Active Substance: ALBUTEROL
     Route: 065
  340. ALBUTEROL [Suspect]
     Active Substance: ALBUTEROL
  341. ALENDRONATE SODIUM [Suspect]
     Active Substance: ALENDRONATE SODIUM
     Indication: Product used for unknown indication
     Dosage: 100 MILLIGRAM, QD (1 EVERY 1 DAY)
  342. ALENDRONATE SODIUM [Suspect]
     Active Substance: ALENDRONATE SODIUM
     Dosage: 100 MILLIGRAM, QD (1 EVERY 1 DAY)
  343. ALENDRONATE SODIUM [Suspect]
     Active Substance: ALENDRONATE SODIUM
     Dosage: 100 MILLIGRAM, QD (1 EVERY 1 DAY)
     Route: 065
  344. ALENDRONATE SODIUM [Suspect]
     Active Substance: ALENDRONATE SODIUM
     Dosage: 100 MILLIGRAM, QD (1 EVERY 1 DAY)
     Route: 065
  345. ALENDRONATE SODIUM [Suspect]
     Active Substance: ALENDRONATE SODIUM
     Dosage: UNK, QD (1 EVERY 1 DAY)
  346. ALENDRONATE SODIUM [Suspect]
     Active Substance: ALENDRONATE SODIUM
     Dosage: UNK, QD (1 EVERY 1 DAY)
  347. ALENDRONATE SODIUM [Suspect]
     Active Substance: ALENDRONATE SODIUM
     Dosage: UNK, QD (1 EVERY 1 DAY)
     Route: 065
  348. ALENDRONATE SODIUM [Suspect]
     Active Substance: ALENDRONATE SODIUM
     Dosage: UNK, QD (1 EVERY 1 DAY)
     Route: 065
  349. ALENDRONATE SODIUM [Suspect]
     Active Substance: ALENDRONATE SODIUM
     Dosage: 1 DOSAGE FORM, QD (1 EVERY 1 DAY)
  350. ALENDRONATE SODIUM [Suspect]
     Active Substance: ALENDRONATE SODIUM
     Dosage: 1 DOSAGE FORM, QD (1 EVERY 1 DAY)
     Route: 065
  351. ALENDRONATE SODIUM [Suspect]
     Active Substance: ALENDRONATE SODIUM
     Dosage: 1 DOSAGE FORM, QD (1 EVERY 1 DAY)
  352. ALENDRONATE SODIUM [Suspect]
     Active Substance: ALENDRONATE SODIUM
     Dosage: 1 DOSAGE FORM, QD (1 EVERY 1 DAY)
     Route: 065
  353. AMOXICILLIN\CLAVULANATE POTASSIUM [Suspect]
     Active Substance: AMOXICILLIN\CLAVULANATE POTASSIUM
     Indication: Product used for unknown indication
  354. AMOXICILLIN\CLAVULANATE POTASSIUM [Suspect]
     Active Substance: AMOXICILLIN\CLAVULANATE POTASSIUM
     Route: 065
  355. AMOXICILLIN\CLAVULANATE POTASSIUM [Suspect]
     Active Substance: AMOXICILLIN\CLAVULANATE POTASSIUM
     Route: 065
  356. AMOXICILLIN\CLAVULANATE POTASSIUM [Suspect]
     Active Substance: AMOXICILLIN\CLAVULANATE POTASSIUM
  357. AMOXICILLIN\CLAVULANATE POTASSIUM [Suspect]
     Active Substance: AMOXICILLIN\CLAVULANATE POTASSIUM
     Indication: Product used for unknown indication
  358. AMOXICILLIN\CLAVULANATE POTASSIUM [Suspect]
     Active Substance: AMOXICILLIN\CLAVULANATE POTASSIUM
     Route: 065
  359. AMOXICILLIN\CLAVULANATE POTASSIUM [Suspect]
     Active Substance: AMOXICILLIN\CLAVULANATE POTASSIUM
     Route: 065
  360. AMOXICILLIN\CLAVULANATE POTASSIUM [Suspect]
     Active Substance: AMOXICILLIN\CLAVULANATE POTASSIUM
  361. AMOXICILLIN\CLAVULANATE POTASSIUM [Suspect]
     Active Substance: AMOXICILLIN\CLAVULANATE POTASSIUM
     Indication: Product used for unknown indication
  362. AMOXICILLIN\CLAVULANATE POTASSIUM [Suspect]
     Active Substance: AMOXICILLIN\CLAVULANATE POTASSIUM
     Route: 065
  363. AMOXICILLIN\CLAVULANATE POTASSIUM [Suspect]
     Active Substance: AMOXICILLIN\CLAVULANATE POTASSIUM
     Route: 065
  364. AMOXICILLIN\CLAVULANATE POTASSIUM [Suspect]
     Active Substance: AMOXICILLIN\CLAVULANATE POTASSIUM
  365. AMOXICILLIN\CLAVULANIC ACID [Suspect]
     Active Substance: AMOXICILLIN\CLAVULANIC ACID
     Indication: Product used for unknown indication
  366. AMOXICILLIN\CLAVULANIC ACID [Suspect]
     Active Substance: AMOXICILLIN\CLAVULANIC ACID
     Route: 065
  367. AMOXICILLIN\CLAVULANIC ACID [Suspect]
     Active Substance: AMOXICILLIN\CLAVULANIC ACID
     Route: 065
  368. AMOXICILLIN\CLAVULANIC ACID [Suspect]
     Active Substance: AMOXICILLIN\CLAVULANIC ACID
  369. PANTOPRAZOLE SODIUM ANHYDROUS [Suspect]
     Active Substance: PANTOPRAZOLE SODIUM ANHYDROUS
     Indication: Product used for unknown indication
     Dosage: UNK, QD (1 EVERY 1 DAY)
  370. PANTOPRAZOLE SODIUM ANHYDROUS [Suspect]
     Active Substance: PANTOPRAZOLE SODIUM ANHYDROUS
     Dosage: UNK, QD (1 EVERY 1 DAY)
  371. PANTOPRAZOLE SODIUM ANHYDROUS [Suspect]
     Active Substance: PANTOPRAZOLE SODIUM ANHYDROUS
     Dosage: UNK, QD (1 EVERY 1 DAY)
     Route: 065
  372. PANTOPRAZOLE SODIUM ANHYDROUS [Suspect]
     Active Substance: PANTOPRAZOLE SODIUM ANHYDROUS
     Dosage: UNK, QD (1 EVERY 1 DAY)
     Route: 065
  373. PANTOPRAZOLE SODIUM ANHYDROUS [Suspect]
     Active Substance: PANTOPRAZOLE SODIUM ANHYDROUS
     Dosage: 2 DOSAGE FORM, QD (1 EVERY 1 DAY)
  374. PANTOPRAZOLE SODIUM ANHYDROUS [Suspect]
     Active Substance: PANTOPRAZOLE SODIUM ANHYDROUS
     Dosage: 2 DOSAGE FORM, QD (1 EVERY 1 DAY)
  375. PANTOPRAZOLE SODIUM ANHYDROUS [Suspect]
     Active Substance: PANTOPRAZOLE SODIUM ANHYDROUS
     Dosage: 2 DOSAGE FORM, QD (1 EVERY 1 DAY)
     Route: 065
  376. PANTOPRAZOLE SODIUM ANHYDROUS [Suspect]
     Active Substance: PANTOPRAZOLE SODIUM ANHYDROUS
     Dosage: 2 DOSAGE FORM, QD (1 EVERY 1 DAY)
     Route: 065
  377. APIXABAN [Suspect]
     Active Substance: APIXABAN
     Indication: Product used for unknown indication
  378. APIXABAN [Suspect]
     Active Substance: APIXABAN
     Route: 065
  379. APIXABAN [Suspect]
     Active Substance: APIXABAN
     Route: 065
  380. APIXABAN [Suspect]
     Active Substance: APIXABAN
  381. AZATHIOPRINE [Suspect]
     Active Substance: AZATHIOPRINE
     Indication: Product used for unknown indication
     Dosage: 50 MILLIGRAM, QD (1 EVERY 1 DAYS)
  382. AZATHIOPRINE [Suspect]
     Active Substance: AZATHIOPRINE
     Dosage: 50 MILLIGRAM, QD (1 EVERY 1 DAYS)
  383. AZATHIOPRINE [Suspect]
     Active Substance: AZATHIOPRINE
     Dosage: 50 MILLIGRAM, QD (1 EVERY 1 DAYS)
     Route: 065
  384. AZATHIOPRINE [Suspect]
     Active Substance: AZATHIOPRINE
     Dosage: 50 MILLIGRAM, QD (1 EVERY 1 DAYS)
     Route: 065
  385. AZATHIOPRINE [Suspect]
     Active Substance: AZATHIOPRINE
     Dosage: 100 MILLIGRAM, QD (1 EVERY 1 DAYS)
  386. AZATHIOPRINE [Suspect]
     Active Substance: AZATHIOPRINE
     Dosage: 100 MILLIGRAM, QD (1 EVERY 1 DAYS)
  387. AZATHIOPRINE [Suspect]
     Active Substance: AZATHIOPRINE
     Dosage: 100 MILLIGRAM, QD (1 EVERY 1 DAYS)
     Route: 048
  388. AZATHIOPRINE [Suspect]
     Active Substance: AZATHIOPRINE
     Dosage: 100 MILLIGRAM, QD (1 EVERY 1 DAYS)
     Route: 048
  389. AZATHIOPRINE [Suspect]
     Active Substance: AZATHIOPRINE
     Dosage: UNK, QD (1 EVERY 1 DAYS)
  390. AZATHIOPRINE [Suspect]
     Active Substance: AZATHIOPRINE
     Dosage: UNK, QD (1 EVERY 1 DAYS)
  391. AZATHIOPRINE [Suspect]
     Active Substance: AZATHIOPRINE
     Dosage: UNK, QD (1 EVERY 1 DAYS)
     Route: 065
  392. AZATHIOPRINE [Suspect]
     Active Substance: AZATHIOPRINE
     Dosage: UNK, QD (1 EVERY 1 DAYS)
     Route: 065
  393. AZATHIOPRINE [Suspect]
     Active Substance: AZATHIOPRINE
  394. AZATHIOPRINE [Suspect]
     Active Substance: AZATHIOPRINE
  395. AZATHIOPRINE [Suspect]
     Active Substance: AZATHIOPRINE
     Route: 065
  396. AZATHIOPRINE [Suspect]
     Active Substance: AZATHIOPRINE
     Route: 065
  397. AZATHIOPRINE [Suspect]
     Active Substance: AZATHIOPRINE
  398. AZATHIOPRINE [Suspect]
     Active Substance: AZATHIOPRINE
     Route: 065
  399. AZATHIOPRINE [Suspect]
     Active Substance: AZATHIOPRINE
  400. AZATHIOPRINE [Suspect]
     Active Substance: AZATHIOPRINE
     Route: 065
  401. AZATHIOPRINE SODIUM [Suspect]
     Active Substance: AZATHIOPRINE SODIUM
     Indication: Product used for unknown indication
  402. AZATHIOPRINE SODIUM [Suspect]
     Active Substance: AZATHIOPRINE SODIUM
     Route: 065
  403. AZATHIOPRINE SODIUM [Suspect]
     Active Substance: AZATHIOPRINE SODIUM
     Route: 065
  404. AZATHIOPRINE SODIUM [Suspect]
     Active Substance: AZATHIOPRINE SODIUM
  405. AZITHROMYCIN DIHYDRATE [Suspect]
     Active Substance: AZITHROMYCIN DIHYDRATE
     Indication: Product used for unknown indication
     Dosage: 1 DOSAGE FORM, QD (1 EVERY 1 DAYS)
  406. AZITHROMYCIN DIHYDRATE [Suspect]
     Active Substance: AZITHROMYCIN DIHYDRATE
     Dosage: 1 DOSAGE FORM, QD (1 EVERY 1 DAYS)
  407. AZITHROMYCIN DIHYDRATE [Suspect]
     Active Substance: AZITHROMYCIN DIHYDRATE
     Dosage: 1 DOSAGE FORM, QD (1 EVERY 1 DAYS)
     Route: 065
  408. AZITHROMYCIN DIHYDRATE [Suspect]
     Active Substance: AZITHROMYCIN DIHYDRATE
     Dosage: 1 DOSAGE FORM, QD (1 EVERY 1 DAYS)
     Route: 065
  409. AZITHROMYCIN DIHYDRATE [Suspect]
     Active Substance: AZITHROMYCIN DIHYDRATE
     Dosage: 2 DOSAGE FORM, QD (1 EVERY 1 DAYS)
  410. AZITHROMYCIN DIHYDRATE [Suspect]
     Active Substance: AZITHROMYCIN DIHYDRATE
     Dosage: 2 DOSAGE FORM, QD (1 EVERY 1 DAYS)
  411. AZITHROMYCIN DIHYDRATE [Suspect]
     Active Substance: AZITHROMYCIN DIHYDRATE
     Dosage: 2 DOSAGE FORM, QD (1 EVERY 1 DAYS)
     Route: 065
  412. AZITHROMYCIN DIHYDRATE [Suspect]
     Active Substance: AZITHROMYCIN DIHYDRATE
     Dosage: 2 DOSAGE FORM, QD (1 EVERY 1 DAYS)
     Route: 065
  413. AZITHROMYCIN DIHYDRATE [Suspect]
     Active Substance: AZITHROMYCIN DIHYDRATE
  414. AZITHROMYCIN DIHYDRATE [Suspect]
     Active Substance: AZITHROMYCIN DIHYDRATE
     Route: 065
  415. AZITHROMYCIN DIHYDRATE [Suspect]
     Active Substance: AZITHROMYCIN DIHYDRATE
  416. AZITHROMYCIN DIHYDRATE [Suspect]
     Active Substance: AZITHROMYCIN DIHYDRATE
     Route: 065
  417. BETA GLUCAN [Suspect]
     Active Substance: BETA GLUCAN
     Indication: Product used for unknown indication
  418. BETA GLUCAN [Suspect]
     Active Substance: BETA GLUCAN
     Route: 065
  419. BETA GLUCAN [Suspect]
     Active Substance: BETA GLUCAN
     Route: 065
  420. BETA GLUCAN [Suspect]
     Active Substance: BETA GLUCAN
  421. BETAMETHASONE [Suspect]
     Active Substance: BETAMETHASONE
     Indication: Product used for unknown indication
  422. BETAMETHASONE [Suspect]
     Active Substance: BETAMETHASONE
     Route: 065
  423. BETAMETHASONE [Suspect]
     Active Substance: BETAMETHASONE
     Route: 065
  424. BETAMETHASONE [Suspect]
     Active Substance: BETAMETHASONE
  425. BETAMETHASONE DIPROPIONATE [Suspect]
     Active Substance: BETAMETHASONE DIPROPIONATE
     Indication: Product used for unknown indication
  426. BETAMETHASONE DIPROPIONATE [Suspect]
     Active Substance: BETAMETHASONE DIPROPIONATE
     Route: 065
  427. BETAMETHASONE DIPROPIONATE [Suspect]
     Active Substance: BETAMETHASONE DIPROPIONATE
     Route: 065
  428. BETAMETHASONE DIPROPIONATE [Suspect]
     Active Substance: BETAMETHASONE DIPROPIONATE
  429. CALCIUM\VITAMIN D [Suspect]
     Active Substance: CALCIUM\VITAMIN D
     Indication: Product used for unknown indication
  430. CALCIUM\VITAMIN D [Suspect]
     Active Substance: CALCIUM\VITAMIN D
     Route: 065
  431. CALCIUM\VITAMIN D [Suspect]
     Active Substance: CALCIUM\VITAMIN D
     Route: 065
  432. CALCIUM\VITAMIN D [Suspect]
     Active Substance: CALCIUM\VITAMIN D
  433. CALCIUM CARBONATE\CHOLECALCIFEROL [Suspect]
     Active Substance: CALCIUM CARBONATE\CHOLECALCIFEROL
     Indication: Product used for unknown indication
  434. CALCIUM CARBONATE\CHOLECALCIFEROL [Suspect]
     Active Substance: CALCIUM CARBONATE\CHOLECALCIFEROL
     Route: 065
  435. CALCIUM CARBONATE\CHOLECALCIFEROL [Suspect]
     Active Substance: CALCIUM CARBONATE\CHOLECALCIFEROL
     Route: 065
  436. CALCIUM CARBONATE\CHOLECALCIFEROL [Suspect]
     Active Substance: CALCIUM CARBONATE\CHOLECALCIFEROL
  437. CALCIUM GLYCINATE [Suspect]
     Active Substance: CALCIUM GLYCINATE
     Indication: Product used for unknown indication
  438. CALCIUM GLYCINATE [Suspect]
     Active Substance: CALCIUM GLYCINATE
     Route: 065
  439. CALCIUM GLYCINATE [Suspect]
     Active Substance: CALCIUM GLYCINATE
     Route: 065
  440. CALCIUM GLYCINATE [Suspect]
     Active Substance: CALCIUM GLYCINATE
  441. CALCIUM CARBONATE [Suspect]
     Active Substance: CALCIUM CARBONATE
     Indication: Product used for unknown indication
  442. CALCIUM CARBONATE [Suspect]
     Active Substance: CALCIUM CARBONATE
     Route: 065
  443. CALCIUM CARBONATE [Suspect]
     Active Substance: CALCIUM CARBONATE
     Route: 065
  444. CALCIUM CARBONATE [Suspect]
     Active Substance: CALCIUM CARBONATE
  445. CALCIUM CARBONATE [Suspect]
     Active Substance: CALCIUM CARBONATE
     Indication: Product used for unknown indication
     Route: 065
  446. CALCIUM CARBONATE [Suspect]
     Active Substance: CALCIUM CARBONATE
  447. CALCIUM CARBONATE [Suspect]
     Active Substance: CALCIUM CARBONATE
  448. CALCIUM CARBONATE [Suspect]
     Active Substance: CALCIUM CARBONATE
     Route: 065
  449. CALCIUM CARBONATE [Suspect]
     Active Substance: CALCIUM CARBONATE
  450. CALCIUM CARBONATE [Suspect]
     Active Substance: CALCIUM CARBONATE
  451. CALCIUM CARBONATE [Suspect]
     Active Substance: CALCIUM CARBONATE
     Route: 065
  452. CALCIUM CARBONATE [Suspect]
     Active Substance: CALCIUM CARBONATE
     Route: 065
  453. CALCIUM CARBONATE [Suspect]
     Active Substance: CALCIUM CARBONATE
     Dosage: 500 MILLIGRAM, QD (1 EVERY 1 DAYS)
     Route: 065
  454. CALCIUM CARBONATE [Suspect]
     Active Substance: CALCIUM CARBONATE
     Dosage: 500 MILLIGRAM, QD (1 EVERY 1 DAYS)
  455. CALCIUM CARBONATE [Suspect]
     Active Substance: CALCIUM CARBONATE
     Dosage: 500 MILLIGRAM, QD (1 EVERY 1 DAYS)
  456. CALCIUM CARBONATE [Suspect]
     Active Substance: CALCIUM CARBONATE
     Dosage: 500 MILLIGRAM, QD (1 EVERY 1 DAYS)
     Route: 065
  457. CALCIUM CARBONATE [Suspect]
     Active Substance: CALCIUM CARBONATE
     Dosage: 2 DOSAGE FORM, QD (1 EVERY 1 DAYS)
  458. CALCIUM CARBONATE [Suspect]
     Active Substance: CALCIUM CARBONATE
     Dosage: 2 DOSAGE FORM, QD (1 EVERY 1 DAYS)
  459. CALCIUM CARBONATE [Suspect]
     Active Substance: CALCIUM CARBONATE
     Dosage: 2 DOSAGE FORM, QD (1 EVERY 1 DAYS)
     Route: 065
  460. CALCIUM CARBONATE [Suspect]
     Active Substance: CALCIUM CARBONATE
     Dosage: 2 DOSAGE FORM, QD (1 EVERY 1 DAYS)
     Route: 065
  461. CALCIUM CARBONATE [Suspect]
     Active Substance: CALCIUM CARBONATE
     Dosage: 1 DOSAGE FORM, QD (1 EVERY 1 DAYS)
  462. CALCIUM CARBONATE [Suspect]
     Active Substance: CALCIUM CARBONATE
     Dosage: 1 DOSAGE FORM, QD (1 EVERY 1 DAYS)
  463. CALCIUM CARBONATE [Suspect]
     Active Substance: CALCIUM CARBONATE
     Dosage: 1 DOSAGE FORM, QD (1 EVERY 1 DAYS)
     Route: 065
  464. CALCIUM CARBONATE [Suspect]
     Active Substance: CALCIUM CARBONATE
     Dosage: 1 DOSAGE FORM, QD (1 EVERY 1 DAYS)
     Route: 065
  465. CALCIUM CARBONATE [Suspect]
     Active Substance: CALCIUM CARBONATE
     Dosage: UNK, QD (1 EVERY 1 DAYS)
  466. CALCIUM CARBONATE [Suspect]
     Active Substance: CALCIUM CARBONATE
     Dosage: UNK, QD (1 EVERY 1 DAYS)
     Route: 065
  467. CALCIUM CARBONATE [Suspect]
     Active Substance: CALCIUM CARBONATE
     Dosage: UNK, QD (1 EVERY 1 DAYS)
  468. CALCIUM CARBONATE [Suspect]
     Active Substance: CALCIUM CARBONATE
     Dosage: UNK, QD (1 EVERY 1 DAYS)
     Route: 065
  469. CALCIUM CITRATE [Suspect]
     Active Substance: CALCIUM CITRATE
     Indication: Product used for unknown indication
  470. CALCIUM CITRATE [Suspect]
     Active Substance: CALCIUM CITRATE
     Route: 065
  471. CALCIUM CITRATE [Suspect]
     Active Substance: CALCIUM CITRATE
     Route: 065
  472. CALCIUM CITRATE [Suspect]
     Active Substance: CALCIUM CITRATE
  473. CALCIUM LACTATE [Suspect]
     Active Substance: CALCIUM LACTATE
     Indication: Product used for unknown indication
  474. CALCIUM LACTATE [Suspect]
     Active Substance: CALCIUM LACTATE
     Route: 065
  475. CALCIUM LACTATE [Suspect]
     Active Substance: CALCIUM LACTATE
     Route: 065
  476. CALCIUM LACTATE [Suspect]
     Active Substance: CALCIUM LACTATE
  477. CALCIUM SENNOSIDES [Suspect]
     Active Substance: SENNOSIDES
     Indication: Product used for unknown indication
  478. CALCIUM SENNOSIDES [Suspect]
     Active Substance: SENNOSIDES
     Route: 065
  479. CALCIUM SENNOSIDES [Suspect]
     Active Substance: SENNOSIDES
     Route: 065
  480. CALCIUM SENNOSIDES [Suspect]
     Active Substance: SENNOSIDES
  481. CANDESARTAN [Suspect]
     Active Substance: CANDESARTAN
     Indication: Product used for unknown indication
     Dosage: 1 DOSAGE FORM, QD (1 EVERY 1 DAYS)
  482. CANDESARTAN [Suspect]
     Active Substance: CANDESARTAN
     Dosage: 1 DOSAGE FORM, QD (1 EVERY 1 DAYS)
  483. CANDESARTAN [Suspect]
     Active Substance: CANDESARTAN
     Dosage: 1 DOSAGE FORM, QD (1 EVERY 1 DAYS)
     Route: 048
  484. CANDESARTAN [Suspect]
     Active Substance: CANDESARTAN
     Dosage: 1 DOSAGE FORM, QD (1 EVERY 1 DAYS)
     Route: 048
  485. CANDESARTAN [Suspect]
     Active Substance: CANDESARTAN
  486. CANDESARTAN [Suspect]
     Active Substance: CANDESARTAN
  487. CANDESARTAN [Suspect]
     Active Substance: CANDESARTAN
     Route: 048
  488. CANDESARTAN [Suspect]
     Active Substance: CANDESARTAN
     Route: 048
  489. CANDESARTAN [Suspect]
     Active Substance: CANDESARTAN
     Dosage: UNK, QD (1 EVERY 1 DAYS)
  490. CANDESARTAN [Suspect]
     Active Substance: CANDESARTAN
     Dosage: UNK, QD (1 EVERY 1 DAYS)
     Route: 065
  491. CANDESARTAN [Suspect]
     Active Substance: CANDESARTAN
     Dosage: UNK, QD (1 EVERY 1 DAYS)
  492. CANDESARTAN [Suspect]
     Active Substance: CANDESARTAN
     Dosage: UNK, QD (1 EVERY 1 DAYS)
     Route: 065
  493. CANDESARTAN CILEXETIL [Suspect]
     Active Substance: CANDESARTAN CILEXETIL
     Indication: Product used for unknown indication
     Dosage: 32 MILLIGRAM, QD (1 EVERY 1 DAY)
     Route: 065
  494. CANDESARTAN CILEXETIL [Suspect]
     Active Substance: CANDESARTAN CILEXETIL
     Dosage: 32 MILLIGRAM, QD (1 EVERY 1 DAY)
  495. CANDESARTAN CILEXETIL [Suspect]
     Active Substance: CANDESARTAN CILEXETIL
     Dosage: 32 MILLIGRAM, QD (1 EVERY 1 DAY)
  496. CANDESARTAN CILEXETIL [Suspect]
     Active Substance: CANDESARTAN CILEXETIL
     Dosage: 32 MILLIGRAM, QD (1 EVERY 1 DAY)
     Route: 065
  497. CANDESARTAN CILEXETIL [Suspect]
     Active Substance: CANDESARTAN CILEXETIL
     Dosage: 1 DOSAGE FORM, QD (1 EVERY 1 DAY)
     Route: 065
  498. CANDESARTAN CILEXETIL [Suspect]
     Active Substance: CANDESARTAN CILEXETIL
     Dosage: 1 DOSAGE FORM, QD (1 EVERY 1 DAY)
  499. CANDESARTAN CILEXETIL [Suspect]
     Active Substance: CANDESARTAN CILEXETIL
     Dosage: 1 DOSAGE FORM, QD (1 EVERY 1 DAY)
  500. CANDESARTAN CILEXETIL [Suspect]
     Active Substance: CANDESARTAN CILEXETIL
     Dosage: 1 DOSAGE FORM, QD (1 EVERY 1 DAY)
     Route: 065
  501. CANDESARTAN CILEXETIL [Suspect]
     Active Substance: CANDESARTAN CILEXETIL
  502. CANDESARTAN CILEXETIL [Suspect]
     Active Substance: CANDESARTAN CILEXETIL
  503. CANDESARTAN CILEXETIL [Suspect]
     Active Substance: CANDESARTAN CILEXETIL
     Route: 065
  504. CANDESARTAN CILEXETIL [Suspect]
     Active Substance: CANDESARTAN CILEXETIL
     Route: 065
  505. CANDESARTAN CILEXETIL [Suspect]
     Active Substance: CANDESARTAN CILEXETIL
     Dosage: UNK, QD (1 EVERY 1 DAY)
  506. CANDESARTAN CILEXETIL [Suspect]
     Active Substance: CANDESARTAN CILEXETIL
     Dosage: UNK, QD (1 EVERY 1 DAY)
  507. CANDESARTAN CILEXETIL [Suspect]
     Active Substance: CANDESARTAN CILEXETIL
     Dosage: UNK, QD (1 EVERY 1 DAY)
     Route: 048
  508. CANDESARTAN CILEXETIL [Suspect]
     Active Substance: CANDESARTAN CILEXETIL
     Dosage: UNK, QD (1 EVERY 1 DAY)
     Route: 048
  509. CANDESARTAN CILEXETIL\HYDROCHLOROTHIAZIDE [Suspect]
     Active Substance: CANDESARTAN CILEXETIL\HYDROCHLOROTHIAZIDE
     Indication: Product used for unknown indication
  510. CANDESARTAN CILEXETIL\HYDROCHLOROTHIAZIDE [Suspect]
     Active Substance: CANDESARTAN CILEXETIL\HYDROCHLOROTHIAZIDE
  511. CANDESARTAN CILEXETIL\HYDROCHLOROTHIAZIDE [Suspect]
     Active Substance: CANDESARTAN CILEXETIL\HYDROCHLOROTHIAZIDE
     Route: 065
  512. CANDESARTAN CILEXETIL\HYDROCHLOROTHIAZIDE [Suspect]
     Active Substance: CANDESARTAN CILEXETIL\HYDROCHLOROTHIAZIDE
     Route: 065
  513. CANDESARTAN CILEXETIL\HYDROCHLOROTHIAZIDE [Suspect]
     Active Substance: CANDESARTAN CILEXETIL\HYDROCHLOROTHIAZIDE
     Dosage: 1 DOSAGE FORM, QD (1 EVERY 1 DAYS)
  514. CANDESARTAN CILEXETIL\HYDROCHLOROTHIAZIDE [Suspect]
     Active Substance: CANDESARTAN CILEXETIL\HYDROCHLOROTHIAZIDE
     Dosage: 1 DOSAGE FORM, QD (1 EVERY 1 DAYS)
  515. CANDESARTAN CILEXETIL\HYDROCHLOROTHIAZIDE [Suspect]
     Active Substance: CANDESARTAN CILEXETIL\HYDROCHLOROTHIAZIDE
     Dosage: 1 DOSAGE FORM, QD (1 EVERY 1 DAYS)
     Route: 048
  516. CANDESARTAN CILEXETIL\HYDROCHLOROTHIAZIDE [Suspect]
     Active Substance: CANDESARTAN CILEXETIL\HYDROCHLOROTHIAZIDE
     Dosage: 1 DOSAGE FORM, QD (1 EVERY 1 DAYS)
     Route: 048
  517. CEFUROXIME [Suspect]
     Active Substance: CEFUROXIME
     Indication: Product used for unknown indication
     Dosage: 2 DOSAGE FORM, QD (1 EVERY 1 DAYS)
     Route: 065
  518. CEFUROXIME [Suspect]
     Active Substance: CEFUROXIME
     Dosage: 2 DOSAGE FORM, QD (1 EVERY 1 DAYS)
  519. CEFUROXIME [Suspect]
     Active Substance: CEFUROXIME
     Dosage: 2 DOSAGE FORM, QD (1 EVERY 1 DAYS)
  520. CEFUROXIME [Suspect]
     Active Substance: CEFUROXIME
     Dosage: 2 DOSAGE FORM, QD (1 EVERY 1 DAYS)
     Route: 065
  521. CEFUROXIME [Suspect]
     Active Substance: CEFUROXIME
     Dosage: 1 DOSAGE FORM, QD (1 EVERY 1 DAYS)
  522. CEFUROXIME [Suspect]
     Active Substance: CEFUROXIME
     Dosage: 1 DOSAGE FORM, QD (1 EVERY 1 DAYS)
  523. CEFUROXIME [Suspect]
     Active Substance: CEFUROXIME
     Dosage: 1 DOSAGE FORM, QD (1 EVERY 1 DAYS)
     Route: 065
  524. CEFUROXIME [Suspect]
     Active Substance: CEFUROXIME
     Dosage: 1 DOSAGE FORM, QD (1 EVERY 1 DAYS)
     Route: 065
  525. CEFUROXIME [Suspect]
     Active Substance: CEFUROXIME
     Dosage: 2 DOSAGE FORM, BID (2 EVERY 1 DAYS)
  526. CEFUROXIME [Suspect]
     Active Substance: CEFUROXIME
     Dosage: 2 DOSAGE FORM, BID (2 EVERY 1 DAYS)
     Route: 065
  527. CEFUROXIME [Suspect]
     Active Substance: CEFUROXIME
     Dosage: 2 DOSAGE FORM, BID (2 EVERY 1 DAYS)
  528. CEFUROXIME [Suspect]
     Active Substance: CEFUROXIME
     Dosage: 2 DOSAGE FORM, BID (2 EVERY 1 DAYS)
     Route: 065
  529. CEFUROXIME [Suspect]
     Active Substance: CEFUROXIME
     Dosage: 500 MILLIGRAM, BID (2 EVERY 1 DAYS)
     Route: 065
  530. CEFUROXIME [Suspect]
     Active Substance: CEFUROXIME
     Dosage: 500 MILLIGRAM, BID (2 EVERY 1 DAYS)
  531. CEFUROXIME [Suspect]
     Active Substance: CEFUROXIME
     Dosage: 500 MILLIGRAM, BID (2 EVERY 1 DAYS)
  532. CEFUROXIME [Suspect]
     Active Substance: CEFUROXIME
     Dosage: 500 MILLIGRAM, BID (2 EVERY 1 DAYS)
     Route: 065
  533. CEFUROXIME [Suspect]
     Active Substance: CEFUROXIME
     Dosage: UNK, BID (2 EVERY 1 DAYS)
     Route: 065
  534. CEFUROXIME [Suspect]
     Active Substance: CEFUROXIME
     Dosage: UNK, BID (2 EVERY 1 DAYS)
  535. CEFUROXIME [Suspect]
     Active Substance: CEFUROXIME
     Dosage: UNK, BID (2 EVERY 1 DAYS)
  536. CEFUROXIME [Suspect]
     Active Substance: CEFUROXIME
     Dosage: UNK, BID (2 EVERY 1 DAYS)
     Route: 065
  537. CEFUROXIME [Suspect]
     Active Substance: CEFUROXIME
     Route: 065
  538. CEFUROXIME [Suspect]
     Active Substance: CEFUROXIME
  539. CEFUROXIME [Suspect]
     Active Substance: CEFUROXIME
  540. CEFUROXIME [Suspect]
     Active Substance: CEFUROXIME
     Route: 065
  541. CEFUROXIME [Suspect]
     Active Substance: CEFUROXIME
  542. CEFUROXIME [Suspect]
     Active Substance: CEFUROXIME
  543. CEFUROXIME [Suspect]
     Active Substance: CEFUROXIME
     Route: 065
  544. CEFUROXIME [Suspect]
     Active Substance: CEFUROXIME
     Route: 065
  545. CEFUROXIME [Suspect]
     Active Substance: CEFUROXIME
     Dosage: UNK, QD (1 EVERY 1 DAYS)
  546. CEFUROXIME [Suspect]
     Active Substance: CEFUROXIME
     Dosage: UNK, QD (1 EVERY 1 DAYS)
  547. CEFUROXIME [Suspect]
     Active Substance: CEFUROXIME
     Dosage: UNK, QD (1 EVERY 1 DAYS)
     Route: 065
  548. CEFUROXIME [Suspect]
     Active Substance: CEFUROXIME
     Dosage: UNK, QD (1 EVERY 1 DAYS)
     Route: 065
  549. CEFUROXIME AXETIL [Suspect]
     Active Substance: CEFUROXIME AXETIL
     Indication: Product used for unknown indication
     Dosage: 1000 MILLIGRAM, QD (1 EVERY 1 DAY)
  550. CEFUROXIME AXETIL [Suspect]
     Active Substance: CEFUROXIME AXETIL
     Dosage: 1000 MILLIGRAM, QD (1 EVERY 1 DAY)
  551. CEFUROXIME AXETIL [Suspect]
     Active Substance: CEFUROXIME AXETIL
     Dosage: 1000 MILLIGRAM, QD (1 EVERY 1 DAY)
     Route: 065
  552. CEFUROXIME AXETIL [Suspect]
     Active Substance: CEFUROXIME AXETIL
     Dosage: 1000 MILLIGRAM, QD (1 EVERY 1 DAY)
     Route: 065
  553. CEFUROXIME AXETIL [Suspect]
     Active Substance: CEFUROXIME AXETIL
     Dosage: 500 MILLIGRAM, BID (2 EVERY 1 DAY)
  554. CEFUROXIME AXETIL [Suspect]
     Active Substance: CEFUROXIME AXETIL
     Dosage: 500 MILLIGRAM, BID (2 EVERY 1 DAY)
  555. CEFUROXIME AXETIL [Suspect]
     Active Substance: CEFUROXIME AXETIL
     Dosage: 500 MILLIGRAM, BID (2 EVERY 1 DAY)
     Route: 065
  556. CEFUROXIME AXETIL [Suspect]
     Active Substance: CEFUROXIME AXETIL
     Dosage: 500 MILLIGRAM, BID (2 EVERY 1 DAY)
     Route: 065
  557. CEFUROXIME AXETIL [Suspect]
     Active Substance: CEFUROXIME AXETIL
     Dosage: UNK, QD (1 EVERY 1 DAY)
  558. CEFUROXIME AXETIL [Suspect]
     Active Substance: CEFUROXIME AXETIL
     Dosage: UNK, QD (1 EVERY 1 DAY)
  559. CEFUROXIME AXETIL [Suspect]
     Active Substance: CEFUROXIME AXETIL
     Dosage: UNK, QD (1 EVERY 1 DAY)
     Route: 065
  560. CEFUROXIME AXETIL [Suspect]
     Active Substance: CEFUROXIME AXETIL
     Dosage: UNK, QD (1 EVERY 1 DAY)
     Route: 065
  561. CEFUROXIME AXETIL [Suspect]
     Active Substance: CEFUROXIME AXETIL
     Dosage: UNK, BID (2 EVERY 1 DAY)
  562. CEFUROXIME AXETIL [Suspect]
     Active Substance: CEFUROXIME AXETIL
     Dosage: UNK, BID (2 EVERY 1 DAY)
  563. CEFUROXIME AXETIL [Suspect]
     Active Substance: CEFUROXIME AXETIL
     Dosage: UNK, BID (2 EVERY 1 DAY)
     Route: 065
  564. CEFUROXIME AXETIL [Suspect]
     Active Substance: CEFUROXIME AXETIL
     Dosage: UNK, BID (2 EVERY 1 DAY)
     Route: 065
  565. CEFUROXIME AXETIL [Suspect]
     Active Substance: CEFUROXIME AXETIL
  566. CEFUROXIME AXETIL [Suspect]
     Active Substance: CEFUROXIME AXETIL
     Route: 065
  567. CEFUROXIME AXETIL [Suspect]
     Active Substance: CEFUROXIME AXETIL
  568. CEFUROXIME AXETIL [Suspect]
     Active Substance: CEFUROXIME AXETIL
     Route: 065
  569. CEFUROXIME SODIUM [Suspect]
     Active Substance: CEFUROXIME SODIUM
     Indication: Product used for unknown indication
  570. CEFUROXIME SODIUM [Suspect]
     Active Substance: CEFUROXIME SODIUM
  571. CEFUROXIME SODIUM [Suspect]
     Active Substance: CEFUROXIME SODIUM
     Route: 065
  572. CEFUROXIME SODIUM [Suspect]
     Active Substance: CEFUROXIME SODIUM
     Route: 065
  573. CEFUROXIME SODIUM [Suspect]
     Active Substance: CEFUROXIME SODIUM
     Dosage: 4 DOSAGE FORM, QD (1 EVERY 1 DAYS)
  574. CEFUROXIME SODIUM [Suspect]
     Active Substance: CEFUROXIME SODIUM
     Dosage: 4 DOSAGE FORM, QD (1 EVERY 1 DAYS)
  575. CEFUROXIME SODIUM [Suspect]
     Active Substance: CEFUROXIME SODIUM
     Dosage: 4 DOSAGE FORM, QD (1 EVERY 1 DAYS)
     Route: 065
  576. CEFUROXIME SODIUM [Suspect]
     Active Substance: CEFUROXIME SODIUM
     Dosage: 4 DOSAGE FORM, QD (1 EVERY 1 DAYS)
     Route: 065
  577. CEPHALEXIN [Suspect]
     Active Substance: CEPHALEXIN
     Indication: Product used for unknown indication
  578. CEPHALEXIN [Suspect]
     Active Substance: CEPHALEXIN
     Route: 065
  579. CEPHALEXIN [Suspect]
     Active Substance: CEPHALEXIN
     Route: 065
  580. CEPHALEXIN [Suspect]
     Active Substance: CEPHALEXIN
  581. CLOTRIMAZOLE [Suspect]
     Active Substance: CLOTRIMAZOLE
     Indication: Product used for unknown indication
  582. CLOTRIMAZOLE [Suspect]
     Active Substance: CLOTRIMAZOLE
  583. CLOTRIMAZOLE [Suspect]
     Active Substance: CLOTRIMAZOLE
     Route: 065
  584. CLOTRIMAZOLE [Suspect]
     Active Substance: CLOTRIMAZOLE
     Route: 065
  585. CLOTRIMAZOLE [Suspect]
     Active Substance: CLOTRIMAZOLE
  586. CLOTRIMAZOLE [Suspect]
     Active Substance: CLOTRIMAZOLE
  587. CLOTRIMAZOLE [Suspect]
     Active Substance: CLOTRIMAZOLE
     Route: 065
  588. CLOTRIMAZOLE [Suspect]
     Active Substance: CLOTRIMAZOLE
     Route: 065
  589. DILTIAZEM [Suspect]
     Active Substance: DILTIAZEM
     Indication: Product used for unknown indication
     Route: 065
  590. DILTIAZEM [Suspect]
     Active Substance: DILTIAZEM
  591. DILTIAZEM [Suspect]
     Active Substance: DILTIAZEM
  592. DILTIAZEM [Suspect]
     Active Substance: DILTIAZEM
     Route: 065
  593. DILTIAZEM [Suspect]
     Active Substance: DILTIAZEM
     Route: 065
  594. DILTIAZEM [Suspect]
     Active Substance: DILTIAZEM
  595. DILTIAZEM [Suspect]
     Active Substance: DILTIAZEM
  596. DILTIAZEM [Suspect]
     Active Substance: DILTIAZEM
     Route: 065
  597. DILTIAZEM [Suspect]
     Active Substance: DILTIAZEM
  598. DILTIAZEM [Suspect]
     Active Substance: DILTIAZEM
  599. DILTIAZEM [Suspect]
     Active Substance: DILTIAZEM
     Route: 065
  600. DILTIAZEM [Suspect]
     Active Substance: DILTIAZEM
     Route: 065
  601. DILTIAZEM [Suspect]
     Active Substance: DILTIAZEM
  602. DILTIAZEM [Suspect]
     Active Substance: DILTIAZEM
  603. DILTIAZEM [Suspect]
     Active Substance: DILTIAZEM
     Route: 065
  604. DILTIAZEM [Suspect]
     Active Substance: DILTIAZEM
     Route: 065
  605. DILTIAZEM [Suspect]
     Active Substance: DILTIAZEM
     Indication: Product used for unknown indication
  606. DILTIAZEM [Suspect]
     Active Substance: DILTIAZEM
  607. DILTIAZEM [Suspect]
     Active Substance: DILTIAZEM
     Route: 065
  608. DILTIAZEM [Suspect]
     Active Substance: DILTIAZEM
     Route: 065
  609. DILTIAZEM [Suspect]
     Active Substance: DILTIAZEM
  610. DILTIAZEM [Suspect]
     Active Substance: DILTIAZEM
  611. DILTIAZEM [Suspect]
     Active Substance: DILTIAZEM
     Route: 065
  612. DILTIAZEM [Suspect]
     Active Substance: DILTIAZEM
     Route: 065
  613. DILTIAZEM [Suspect]
     Active Substance: DILTIAZEM
  614. DILTIAZEM [Suspect]
     Active Substance: DILTIAZEM
     Route: 065
  615. DILTIAZEM [Suspect]
     Active Substance: DILTIAZEM
  616. DILTIAZEM [Suspect]
     Active Substance: DILTIAZEM
     Route: 065
  617. DILTIAZEM [Suspect]
     Active Substance: DILTIAZEM
  618. DILTIAZEM [Suspect]
     Active Substance: DILTIAZEM
  619. DILTIAZEM [Suspect]
     Active Substance: DILTIAZEM
     Route: 065
  620. DILTIAZEM [Suspect]
     Active Substance: DILTIAZEM
     Route: 065
  621. DILTIAZEM [Suspect]
     Active Substance: DILTIAZEM
  622. DILTIAZEM [Suspect]
     Active Substance: DILTIAZEM
  623. DILTIAZEM [Suspect]
     Active Substance: DILTIAZEM
     Route: 065
  624. DILTIAZEM [Suspect]
     Active Substance: DILTIAZEM
     Route: 065
  625. DILTIAZEM [Suspect]
     Active Substance: DILTIAZEM
     Dosage: 15 MILLIGRAM, QD (1 EVERY 1 DAY)
  626. DILTIAZEM [Suspect]
     Active Substance: DILTIAZEM
     Dosage: 15 MILLIGRAM, QD (1 EVERY 1 DAY)
  627. DILTIAZEM [Suspect]
     Active Substance: DILTIAZEM
     Dosage: 15 MILLIGRAM, QD (1 EVERY 1 DAY)
     Route: 065
  628. DILTIAZEM [Suspect]
     Active Substance: DILTIAZEM
     Dosage: 15 MILLIGRAM, QD (1 EVERY 1 DAY)
     Route: 065
  629. DILTIAZEM [Suspect]
     Active Substance: DILTIAZEM
  630. DILTIAZEM [Suspect]
     Active Substance: DILTIAZEM
  631. DILTIAZEM [Suspect]
     Active Substance: DILTIAZEM
     Route: 065
  632. DILTIAZEM [Suspect]
     Active Substance: DILTIAZEM
     Route: 065
  633. DILTIAZEM [Suspect]
     Active Substance: DILTIAZEM
     Indication: Product used for unknown indication
  634. DILTIAZEM [Suspect]
     Active Substance: DILTIAZEM
  635. DILTIAZEM [Suspect]
     Active Substance: DILTIAZEM
     Route: 065
  636. DILTIAZEM [Suspect]
     Active Substance: DILTIAZEM
     Route: 065
  637. DILTIAZEM [Suspect]
     Active Substance: DILTIAZEM
  638. DILTIAZEM [Suspect]
     Active Substance: DILTIAZEM
  639. DILTIAZEM [Suspect]
     Active Substance: DILTIAZEM
     Route: 065
  640. DILTIAZEM [Suspect]
     Active Substance: DILTIAZEM
     Route: 065
  641. DILTIAZEM [Suspect]
     Active Substance: DILTIAZEM
  642. DILTIAZEM [Suspect]
     Active Substance: DILTIAZEM
     Route: 065
  643. DILTIAZEM [Suspect]
     Active Substance: DILTIAZEM
  644. DILTIAZEM [Suspect]
     Active Substance: DILTIAZEM
     Route: 065
  645. DOMPERIDONE MALEATE [Suspect]
     Active Substance: DOMPERIDONE MALEATE
     Indication: Product used for unknown indication
     Dosage: 2 DOSAGE FORM, QD (1 EVERY 1 DAYS)
     Route: 065
  646. DOMPERIDONE MALEATE [Suspect]
     Active Substance: DOMPERIDONE MALEATE
     Dosage: 2 DOSAGE FORM, QD (1 EVERY 1 DAYS)
  647. DOMPERIDONE MALEATE [Suspect]
     Active Substance: DOMPERIDONE MALEATE
     Dosage: 2 DOSAGE FORM, QD (1 EVERY 1 DAYS)
  648. DOMPERIDONE MALEATE [Suspect]
     Active Substance: DOMPERIDONE MALEATE
     Dosage: 2 DOSAGE FORM, QD (1 EVERY 1 DAYS)
     Route: 065
  649. DOMPERIDONE MALEATE [Suspect]
     Active Substance: DOMPERIDONE MALEATE
     Dosage: 1 DOSAGE FORM, QD (1 EVERY 1 DAYS)
  650. DOMPERIDONE MALEATE [Suspect]
     Active Substance: DOMPERIDONE MALEATE
     Dosage: 1 DOSAGE FORM, QD (1 EVERY 1 DAYS)
  651. DOMPERIDONE MALEATE [Suspect]
     Active Substance: DOMPERIDONE MALEATE
     Dosage: 1 DOSAGE FORM, QD (1 EVERY 1 DAYS)
     Route: 065
  652. DOMPERIDONE MALEATE [Suspect]
     Active Substance: DOMPERIDONE MALEATE
     Dosage: 1 DOSAGE FORM, QD (1 EVERY 1 DAYS)
     Route: 065
  653. DOMPERIDONE MALEATE [Suspect]
     Active Substance: DOMPERIDONE MALEATE
     Dosage: UNK, QD (1 EVERY 1 DAYS)
     Route: 065
  654. DOMPERIDONE MALEATE [Suspect]
     Active Substance: DOMPERIDONE MALEATE
     Dosage: UNK, QD (1 EVERY 1 DAYS)
  655. DOMPERIDONE MALEATE [Suspect]
     Active Substance: DOMPERIDONE MALEATE
     Dosage: UNK, QD (1 EVERY 1 DAYS)
  656. DOMPERIDONE MALEATE [Suspect]
     Active Substance: DOMPERIDONE MALEATE
     Dosage: UNK, QD (1 EVERY 1 DAYS)
     Route: 065
  657. DOMPERIDONE MALEATE [Suspect]
     Active Substance: DOMPERIDONE MALEATE
     Dosage: 10 MILLIGRAM, BID (2 EVERY 1 DAYS)
  658. DOMPERIDONE MALEATE [Suspect]
     Active Substance: DOMPERIDONE MALEATE
     Dosage: 10 MILLIGRAM, BID (2 EVERY 1 DAYS)
  659. DOMPERIDONE MALEATE [Suspect]
     Active Substance: DOMPERIDONE MALEATE
     Dosage: 10 MILLIGRAM, BID (2 EVERY 1 DAYS)
     Route: 065
  660. DOMPERIDONE MALEATE [Suspect]
     Active Substance: DOMPERIDONE MALEATE
     Dosage: 10 MILLIGRAM, BID (2 EVERY 1 DAYS)
     Route: 065
  661. DOMPERIDONE MALEATE [Suspect]
     Active Substance: DOMPERIDONE MALEATE
     Dosage: UNK, BID (2 EVERY 1 DAYS)
  662. DOMPERIDONE MALEATE [Suspect]
     Active Substance: DOMPERIDONE MALEATE
     Dosage: UNK, BID (2 EVERY 1 DAYS)
  663. DOMPERIDONE MALEATE [Suspect]
     Active Substance: DOMPERIDONE MALEATE
     Dosage: UNK, BID (2 EVERY 1 DAYS)
     Route: 065
  664. DOMPERIDONE MALEATE [Suspect]
     Active Substance: DOMPERIDONE MALEATE
     Dosage: UNK, BID (2 EVERY 1 DAYS)
     Route: 065
  665. DOMPERIDONE MALEATE [Suspect]
     Active Substance: DOMPERIDONE MALEATE
  666. DOMPERIDONE MALEATE [Suspect]
     Active Substance: DOMPERIDONE MALEATE
     Route: 065
  667. DOMPERIDONE MALEATE [Suspect]
     Active Substance: DOMPERIDONE MALEATE
  668. DOMPERIDONE MALEATE [Suspect]
     Active Substance: DOMPERIDONE MALEATE
     Route: 065
  669. DOXAZOSIN [Suspect]
     Active Substance: DOXAZOSIN MESYLATE
     Indication: Product used for unknown indication
     Route: 065
  670. DOXAZOSIN [Suspect]
     Active Substance: DOXAZOSIN MESYLATE
  671. DOXAZOSIN [Suspect]
     Active Substance: DOXAZOSIN MESYLATE
  672. DOXAZOSIN [Suspect]
     Active Substance: DOXAZOSIN MESYLATE
     Route: 065
  673. DOXAZOSIN [Suspect]
     Active Substance: DOXAZOSIN MESYLATE
     Route: 065
  674. DOXAZOSIN [Suspect]
     Active Substance: DOXAZOSIN MESYLATE
  675. DOXAZOSIN [Suspect]
     Active Substance: DOXAZOSIN MESYLATE
  676. DOXAZOSIN [Suspect]
     Active Substance: DOXAZOSIN MESYLATE
     Route: 065
  677. DOXAZOSIN [Suspect]
     Active Substance: DOXAZOSIN MESYLATE
  678. DOXAZOSIN [Suspect]
     Active Substance: DOXAZOSIN MESYLATE
  679. DOXAZOSIN [Suspect]
     Active Substance: DOXAZOSIN MESYLATE
     Route: 065
  680. DOXAZOSIN [Suspect]
     Active Substance: DOXAZOSIN MESYLATE
     Route: 065
  681. DOXAZOSIN [Suspect]
     Active Substance: DOXAZOSIN MESYLATE
  682. DOXAZOSIN [Suspect]
     Active Substance: DOXAZOSIN MESYLATE
  683. DOXAZOSIN [Suspect]
     Active Substance: DOXAZOSIN MESYLATE
     Route: 065
  684. DOXAZOSIN [Suspect]
     Active Substance: DOXAZOSIN MESYLATE
     Route: 065
  685. DOXAZOSIN MESYLATE [Suspect]
     Active Substance: DOXAZOSIN MESYLATE
     Indication: Product used for unknown indication
  686. DOXAZOSIN MESYLATE [Suspect]
     Active Substance: DOXAZOSIN MESYLATE
  687. DOXAZOSIN MESYLATE [Suspect]
     Active Substance: DOXAZOSIN MESYLATE
     Route: 065
  688. DOXAZOSIN MESYLATE [Suspect]
     Active Substance: DOXAZOSIN MESYLATE
     Route: 065
  689. DOXAZOSIN MESYLATE [Suspect]
     Active Substance: DOXAZOSIN MESYLATE
  690. DOXAZOSIN MESYLATE [Suspect]
     Active Substance: DOXAZOSIN MESYLATE
  691. DOXAZOSIN MESYLATE [Suspect]
     Active Substance: DOXAZOSIN MESYLATE
     Route: 065
  692. DOXAZOSIN MESYLATE [Suspect]
     Active Substance: DOXAZOSIN MESYLATE
     Route: 065
  693. DOXAZOSIN MESYLATE [Suspect]
     Active Substance: DOXAZOSIN MESYLATE
  694. DOXAZOSIN MESYLATE [Suspect]
     Active Substance: DOXAZOSIN MESYLATE
     Route: 065
  695. DOXAZOSIN MESYLATE [Suspect]
     Active Substance: DOXAZOSIN MESYLATE
  696. DOXAZOSIN MESYLATE [Suspect]
     Active Substance: DOXAZOSIN MESYLATE
     Route: 065
  697. DUTASTERIDE [Suspect]
     Active Substance: DUTASTERIDE
     Indication: Product used for unknown indication
  698. DUTASTERIDE [Suspect]
     Active Substance: DUTASTERIDE
  699. DUTASTERIDE [Suspect]
     Active Substance: DUTASTERIDE
     Route: 065
  700. DUTASTERIDE [Suspect]
     Active Substance: DUTASTERIDE
     Route: 065
  701. DUTASTERIDE [Suspect]
     Active Substance: DUTASTERIDE
  702. DUTASTERIDE [Suspect]
     Active Substance: DUTASTERIDE
  703. DUTASTERIDE [Suspect]
     Active Substance: DUTASTERIDE
     Route: 065
  704. DUTASTERIDE [Suspect]
     Active Substance: DUTASTERIDE
     Route: 065
  705. DUTASTERIDE [Suspect]
     Active Substance: DUTASTERIDE
  706. DUTASTERIDE [Suspect]
     Active Substance: DUTASTERIDE
  707. DUTASTERIDE [Suspect]
     Active Substance: DUTASTERIDE
     Route: 065
  708. DUTASTERIDE [Suspect]
     Active Substance: DUTASTERIDE
     Route: 065
  709. DUTASTERIDE [Suspect]
     Active Substance: DUTASTERIDE
     Dosage: 10 MILLIGRAM, QD (1 EVERY 1 DAYS, 1 EVERY 24 HOURS)
  710. DUTASTERIDE [Suspect]
     Active Substance: DUTASTERIDE
     Dosage: 10 MILLIGRAM, QD (1 EVERY 1 DAYS, 1 EVERY 24 HOURS)
  711. DUTASTERIDE [Suspect]
     Active Substance: DUTASTERIDE
     Dosage: 10 MILLIGRAM, QD (1 EVERY 1 DAYS, 1 EVERY 24 HOURS)
     Route: 065
  712. DUTASTERIDE [Suspect]
     Active Substance: DUTASTERIDE
     Dosage: 10 MILLIGRAM, QD (1 EVERY 1 DAYS, 1 EVERY 24 HOURS)
     Route: 065
  713. DUTASTERIDE [Suspect]
     Active Substance: DUTASTERIDE
  714. DUTASTERIDE [Suspect]
     Active Substance: DUTASTERIDE
     Route: 065
  715. DUTASTERIDE [Suspect]
     Active Substance: DUTASTERIDE
  716. DUTASTERIDE [Suspect]
     Active Substance: DUTASTERIDE
     Route: 065
  717. ERGOCALCIFEROL [Suspect]
     Active Substance: ERGOCALCIFEROL
     Indication: Product used for unknown indication
  718. ERGOCALCIFEROL [Suspect]
     Active Substance: ERGOCALCIFEROL
     Route: 065
  719. ERGOCALCIFEROL [Suspect]
     Active Substance: ERGOCALCIFEROL
     Route: 065
  720. ERGOCALCIFEROL [Suspect]
     Active Substance: ERGOCALCIFEROL
  721. ELIQUIS [Suspect]
     Active Substance: APIXABAN
     Indication: Product used for unknown indication
  722. ELIQUIS [Suspect]
     Active Substance: APIXABAN
     Route: 065
  723. ELIQUIS [Suspect]
     Active Substance: APIXABAN
     Route: 065
  724. ELIQUIS [Suspect]
     Active Substance: APIXABAN
  725. ESCITALOPRAM [Suspect]
     Active Substance: ESCITALOPRAM OXALATE
     Indication: Product used for unknown indication
     Dosage: 2 DOSAGE FORM, QD (1 EVERY 1 DAYS)
     Route: 065
  726. ESCITALOPRAM [Suspect]
     Active Substance: ESCITALOPRAM OXALATE
     Dosage: 2 DOSAGE FORM, QD (1 EVERY 1 DAYS)
  727. ESCITALOPRAM [Suspect]
     Active Substance: ESCITALOPRAM OXALATE
     Dosage: 2 DOSAGE FORM, QD (1 EVERY 1 DAYS)
  728. ESCITALOPRAM [Suspect]
     Active Substance: ESCITALOPRAM OXALATE
     Dosage: 2 DOSAGE FORM, QD (1 EVERY 1 DAYS)
     Route: 065
  729. ESCITALOPRAM [Suspect]
     Active Substance: ESCITALOPRAM OXALATE
  730. ESCITALOPRAM [Suspect]
     Active Substance: ESCITALOPRAM OXALATE
  731. ESCITALOPRAM [Suspect]
     Active Substance: ESCITALOPRAM OXALATE
     Route: 065
  732. ESCITALOPRAM [Suspect]
     Active Substance: ESCITALOPRAM OXALATE
     Route: 065
  733. ESCITALOPRAM [Suspect]
     Active Substance: ESCITALOPRAM OXALATE
     Dosage: UNK, QD (1 EVERY 1 DAYS)
     Route: 065
  734. ESCITALOPRAM [Suspect]
     Active Substance: ESCITALOPRAM OXALATE
     Dosage: UNK, QD (1 EVERY 1 DAYS)
  735. ESCITALOPRAM [Suspect]
     Active Substance: ESCITALOPRAM OXALATE
     Dosage: UNK, QD (1 EVERY 1 DAYS)
  736. ESCITALOPRAM [Suspect]
     Active Substance: ESCITALOPRAM OXALATE
     Dosage: UNK, QD (1 EVERY 1 DAYS)
     Route: 065
  737. ESCITALOPRAM [Suspect]
     Active Substance: ESCITALOPRAM OXALATE
     Dosage: 10 MILLIGRAM, QD (1 EVERY 24 HOURS)
  738. ESCITALOPRAM [Suspect]
     Active Substance: ESCITALOPRAM OXALATE
     Dosage: 10 MILLIGRAM, QD (1 EVERY 24 HOURS)
  739. ESCITALOPRAM [Suspect]
     Active Substance: ESCITALOPRAM OXALATE
     Dosage: 10 MILLIGRAM, QD (1 EVERY 24 HOURS)
     Route: 065
  740. ESCITALOPRAM [Suspect]
     Active Substance: ESCITALOPRAM OXALATE
     Dosage: 10 MILLIGRAM, QD (1 EVERY 24 HOURS)
     Route: 065
  741. ESCITALOPRAM [Suspect]
     Active Substance: ESCITALOPRAM OXALATE
     Dosage: 10 MILLIGRAM, BID (1 EVERY 12 HOURS)
  742. ESCITALOPRAM [Suspect]
     Active Substance: ESCITALOPRAM OXALATE
     Dosage: 10 MILLIGRAM, BID (1 EVERY 12 HOURS)
  743. ESCITALOPRAM [Suspect]
     Active Substance: ESCITALOPRAM OXALATE
     Dosage: 10 MILLIGRAM, BID (1 EVERY 12 HOURS)
     Route: 065
  744. ESCITALOPRAM [Suspect]
     Active Substance: ESCITALOPRAM OXALATE
     Dosage: 10 MILLIGRAM, BID (1 EVERY 12 HOURS)
     Route: 065
  745. ESCITALOPRAM [Suspect]
     Active Substance: ESCITALOPRAM OXALATE
  746. ESCITALOPRAM [Suspect]
     Active Substance: ESCITALOPRAM OXALATE
     Route: 065
  747. ESCITALOPRAM [Suspect]
     Active Substance: ESCITALOPRAM OXALATE
  748. ESCITALOPRAM [Suspect]
     Active Substance: ESCITALOPRAM OXALATE
     Route: 065
  749. ESCITALOPRAM OXALATE [Suspect]
     Active Substance: ESCITALOPRAM OXALATE
     Indication: Product used for unknown indication
     Dosage: 10 MILLIGRAM, BID (1 EVERY 12 HOURS)
     Route: 065
  750. ESCITALOPRAM OXALATE [Suspect]
     Active Substance: ESCITALOPRAM OXALATE
     Dosage: 10 MILLIGRAM, BID (1 EVERY 12 HOURS)
  751. ESCITALOPRAM OXALATE [Suspect]
     Active Substance: ESCITALOPRAM OXALATE
     Dosage: 10 MILLIGRAM, BID (1 EVERY 12 HOURS)
  752. ESCITALOPRAM OXALATE [Suspect]
     Active Substance: ESCITALOPRAM OXALATE
     Dosage: 10 MILLIGRAM, BID (1 EVERY 12 HOURS)
     Route: 065
  753. ESCITALOPRAM OXALATE [Suspect]
     Active Substance: ESCITALOPRAM OXALATE
     Dosage: 10 MILLIGRAM, QD (1 EVERY 1 DAYS)
     Route: 065
  754. ESCITALOPRAM OXALATE [Suspect]
     Active Substance: ESCITALOPRAM OXALATE
     Dosage: 10 MILLIGRAM, QD (1 EVERY 1 DAYS)
  755. ESCITALOPRAM OXALATE [Suspect]
     Active Substance: ESCITALOPRAM OXALATE
     Dosage: 10 MILLIGRAM, QD (1 EVERY 1 DAYS)
  756. ESCITALOPRAM OXALATE [Suspect]
     Active Substance: ESCITALOPRAM OXALATE
     Dosage: 10 MILLIGRAM, QD (1 EVERY 1 DAYS)
     Route: 065
  757. ESCITALOPRAM OXALATE [Suspect]
     Active Substance: ESCITALOPRAM OXALATE
  758. ESCITALOPRAM OXALATE [Suspect]
     Active Substance: ESCITALOPRAM OXALATE
  759. ESCITALOPRAM OXALATE [Suspect]
     Active Substance: ESCITALOPRAM OXALATE
     Route: 065
  760. ESCITALOPRAM OXALATE [Suspect]
     Active Substance: ESCITALOPRAM OXALATE
     Route: 065
  761. ESCITALOPRAM OXALATE [Suspect]
     Active Substance: ESCITALOPRAM OXALATE
  762. ESCITALOPRAM OXALATE [Suspect]
     Active Substance: ESCITALOPRAM OXALATE
  763. ESCITALOPRAM OXALATE [Suspect]
     Active Substance: ESCITALOPRAM OXALATE
     Route: 065
  764. ESCITALOPRAM OXALATE [Suspect]
     Active Substance: ESCITALOPRAM OXALATE
     Route: 065
  765. ESCITALOPRAM OXALATE [Suspect]
     Active Substance: ESCITALOPRAM OXALATE
     Dosage: 2 DOSAGE FORM, BID (1 EVERY 12 HOURS)
  766. ESCITALOPRAM OXALATE [Suspect]
     Active Substance: ESCITALOPRAM OXALATE
     Dosage: 2 DOSAGE FORM, BID (1 EVERY 12 HOURS)
  767. ESCITALOPRAM OXALATE [Suspect]
     Active Substance: ESCITALOPRAM OXALATE
     Dosage: 2 DOSAGE FORM, BID (1 EVERY 12 HOURS)
     Route: 065
  768. ESCITALOPRAM OXALATE [Suspect]
     Active Substance: ESCITALOPRAM OXALATE
     Dosage: 2 DOSAGE FORM, BID (1 EVERY 12 HOURS)
     Route: 065
  769. ESCITALOPRAM OXALATE [Suspect]
     Active Substance: ESCITALOPRAM OXALATE
     Route: 065
  770. ESCITALOPRAM OXALATE [Suspect]
     Active Substance: ESCITALOPRAM OXALATE
  771. ESCITALOPRAM OXALATE [Suspect]
     Active Substance: ESCITALOPRAM OXALATE
  772. ESCITALOPRAM OXALATE [Suspect]
     Active Substance: ESCITALOPRAM OXALATE
     Route: 065
  773. ESCITALOPRAM OXALATE [Suspect]
     Active Substance: ESCITALOPRAM OXALATE
     Route: 065
  774. ESCITALOPRAM OXALATE [Suspect]
     Active Substance: ESCITALOPRAM OXALATE
  775. ESCITALOPRAM OXALATE [Suspect]
     Active Substance: ESCITALOPRAM OXALATE
  776. ESCITALOPRAM OXALATE [Suspect]
     Active Substance: ESCITALOPRAM OXALATE
     Route: 065
  777. ESCITALOPRAM OXALATE [Suspect]
     Active Substance: ESCITALOPRAM OXALATE
     Dosage: 10 MILLIGRAM, BID (1 EVERY 12 HOURS)
  778. ESCITALOPRAM OXALATE [Suspect]
     Active Substance: ESCITALOPRAM OXALATE
     Dosage: 10 MILLIGRAM, BID (1 EVERY 12 HOURS)
  779. ESCITALOPRAM OXALATE [Suspect]
     Active Substance: ESCITALOPRAM OXALATE
     Dosage: 10 MILLIGRAM, BID (1 EVERY 12 HOURS)
     Route: 048
  780. ESCITALOPRAM OXALATE [Suspect]
     Active Substance: ESCITALOPRAM OXALATE
     Dosage: 10 MILLIGRAM, BID (1 EVERY 12 HOURS)
     Route: 048
  781. ESCITALOPRAM OXALATE [Suspect]
     Active Substance: ESCITALOPRAM OXALATE
     Dosage: 2 DOSAGE FORM, QD (1 EVERY 1 DAYS)
  782. ESCITALOPRAM OXALATE [Suspect]
     Active Substance: ESCITALOPRAM OXALATE
     Dosage: 2 DOSAGE FORM, QD (1 EVERY 1 DAYS)
     Route: 065
  783. ESCITALOPRAM OXALATE [Suspect]
     Active Substance: ESCITALOPRAM OXALATE
     Dosage: 2 DOSAGE FORM, QD (1 EVERY 1 DAYS)
  784. ESCITALOPRAM OXALATE [Suspect]
     Active Substance: ESCITALOPRAM OXALATE
     Dosage: 2 DOSAGE FORM, QD (1 EVERY 1 DAYS)
     Route: 065
  785. FLUTICASONE PROPIONATE\SALMETEROL XINAFOATE [Suspect]
     Active Substance: FLUTICASONE PROPIONATE\SALMETEROL XINAFOATE
     Indication: Product used for unknown indication
     Dosage: 500 MILLIGRAM, QD (1 EVERY 1 DAYS)
  786. FLUTICASONE PROPIONATE\SALMETEROL XINAFOATE [Suspect]
     Active Substance: FLUTICASONE PROPIONATE\SALMETEROL XINAFOATE
     Dosage: 500 MILLIGRAM, QD (1 EVERY 1 DAYS)
     Route: 065
  787. FLUTICASONE PROPIONATE\SALMETEROL XINAFOATE [Suspect]
     Active Substance: FLUTICASONE PROPIONATE\SALMETEROL XINAFOATE
     Dosage: 500 MILLIGRAM, QD (1 EVERY 1 DAYS)
     Route: 065
  788. FLUTICASONE PROPIONATE\SALMETEROL XINAFOATE [Suspect]
     Active Substance: FLUTICASONE PROPIONATE\SALMETEROL XINAFOATE
     Dosage: 500 MILLIGRAM, QD (1 EVERY 1 DAYS)
  789. FLOMAX [Suspect]
     Active Substance: TAMSULOSIN HYDROCHLORIDE
     Indication: Product used for unknown indication
     Dosage: UNK, QD (1 EVERY 1 DAYS)
  790. FLOMAX [Suspect]
     Active Substance: TAMSULOSIN HYDROCHLORIDE
     Dosage: UNK, QD (1 EVERY 1 DAYS)
  791. FLOMAX [Suspect]
     Active Substance: TAMSULOSIN HYDROCHLORIDE
     Dosage: UNK, QD (1 EVERY 1 DAYS)
     Route: 065
  792. FLOMAX [Suspect]
     Active Substance: TAMSULOSIN HYDROCHLORIDE
     Dosage: UNK, QD (1 EVERY 1 DAYS)
     Route: 065
  793. FLOMAX [Suspect]
     Active Substance: TAMSULOSIN HYDROCHLORIDE
  794. FLOMAX [Suspect]
     Active Substance: TAMSULOSIN HYDROCHLORIDE
  795. FLOMAX [Suspect]
     Active Substance: TAMSULOSIN HYDROCHLORIDE
     Route: 065
  796. FLOMAX [Suspect]
     Active Substance: TAMSULOSIN HYDROCHLORIDE
     Route: 065
  797. FLUTICASONE FUROATE\VILANTEROL TRIFENATATE [Suspect]
     Active Substance: FLUTICASONE FUROATE\VILANTEROL TRIFENATATE
     Indication: Product used for unknown indication
     Dosage: 1 DOSAGE FORM, QD (1 EVERY 1 DAYS)
  798. FLUTICASONE FUROATE\VILANTEROL TRIFENATATE [Suspect]
     Active Substance: FLUTICASONE FUROATE\VILANTEROL TRIFENATATE
     Dosage: 1 DOSAGE FORM, QD (1 EVERY 1 DAYS)
     Route: 065
  799. FLUTICASONE FUROATE\VILANTEROL TRIFENATATE [Suspect]
     Active Substance: FLUTICASONE FUROATE\VILANTEROL TRIFENATATE
     Dosage: 1 DOSAGE FORM, QD (1 EVERY 1 DAYS)
     Route: 065
  800. FLUTICASONE FUROATE\VILANTEROL TRIFENATATE [Suspect]
     Active Substance: FLUTICASONE FUROATE\VILANTEROL TRIFENATATE
     Dosage: 1 DOSAGE FORM, QD (1 EVERY 1 DAYS)
  801. LEVOFLOXACIN [Suspect]
     Active Substance: LEVOFLOXACIN
     Indication: Product used for unknown indication
  802. LEVOFLOXACIN [Suspect]
     Active Substance: LEVOFLOXACIN
  803. LEVOFLOXACIN [Suspect]
     Active Substance: LEVOFLOXACIN
     Route: 065
  804. LEVOFLOXACIN [Suspect]
     Active Substance: LEVOFLOXACIN
     Route: 065
  805. LEVOFLOXACIN [Suspect]
     Active Substance: LEVOFLOXACIN
     Dosage: 50 MILLIGRAM, QD (1 EVERY 24 HOURS)
  806. LEVOFLOXACIN [Suspect]
     Active Substance: LEVOFLOXACIN
     Dosage: 50 MILLIGRAM, QD (1 EVERY 24 HOURS)
  807. LEVOFLOXACIN [Suspect]
     Active Substance: LEVOFLOXACIN
     Dosage: 50 MILLIGRAM, QD (1 EVERY 24 HOURS)
     Route: 065
  808. LEVOFLOXACIN [Suspect]
     Active Substance: LEVOFLOXACIN
     Dosage: 50 MILLIGRAM, QD (1 EVERY 24 HOURS)
     Route: 065
  809. LEVOFLOXACIN HEMIHYDRATE [Suspect]
     Active Substance: LEVOFLOXACIN
     Indication: Product used for unknown indication
     Dosage: 500 MILLIGRAM, QD (1 EVERY 1 DAYS)
  810. LEVOFLOXACIN HEMIHYDRATE [Suspect]
     Active Substance: LEVOFLOXACIN
     Dosage: 500 MILLIGRAM, QD (1 EVERY 1 DAYS)
  811. LEVOFLOXACIN HEMIHYDRATE [Suspect]
     Active Substance: LEVOFLOXACIN
     Dosage: 500 MILLIGRAM, QD (1 EVERY 1 DAYS)
     Route: 065
  812. LEVOFLOXACIN HEMIHYDRATE [Suspect]
     Active Substance: LEVOFLOXACIN
     Dosage: 500 MILLIGRAM, QD (1 EVERY 1 DAYS)
     Route: 065
  813. LEVOFLOXACIN HEMIHYDRATE [Suspect]
     Active Substance: LEVOFLOXACIN
  814. LEVOFLOXACIN HEMIHYDRATE [Suspect]
     Active Substance: LEVOFLOXACIN
  815. LEVOFLOXACIN HEMIHYDRATE [Suspect]
     Active Substance: LEVOFLOXACIN
     Route: 065
  816. LEVOFLOXACIN HEMIHYDRATE [Suspect]
     Active Substance: LEVOFLOXACIN
     Route: 065
  817. LEVOFLOXACIN HEMIHYDRATE [Suspect]
     Active Substance: LEVOFLOXACIN
  818. LEVOFLOXACIN HEMIHYDRATE [Suspect]
     Active Substance: LEVOFLOXACIN
     Route: 065
  819. LEVOFLOXACIN HEMIHYDRATE [Suspect]
     Active Substance: LEVOFLOXACIN
  820. LEVOFLOXACIN HEMIHYDRATE [Suspect]
     Active Substance: LEVOFLOXACIN
     Route: 065
  821. FORMOTEROL [Suspect]
     Active Substance: FORMOTEROL
     Indication: Product used for unknown indication
  822. FORMOTEROL [Suspect]
     Active Substance: FORMOTEROL
     Route: 065
  823. FORMOTEROL [Suspect]
     Active Substance: FORMOTEROL
     Route: 065
  824. FORMOTEROL [Suspect]
     Active Substance: FORMOTEROL
  825. FUROSEMIDE [Suspect]
     Active Substance: FUROSEMIDE
     Indication: Product used for unknown indication
     Dosage: 1 DOSAGE FORM, QD (1 EVERY 1 DAYS)
  826. FUROSEMIDE [Suspect]
     Active Substance: FUROSEMIDE
     Dosage: 1 DOSAGE FORM, QD (1 EVERY 1 DAYS)
  827. FUROSEMIDE [Suspect]
     Active Substance: FUROSEMIDE
     Dosage: 1 DOSAGE FORM, QD (1 EVERY 1 DAYS)
     Route: 065
  828. FUROSEMIDE [Suspect]
     Active Substance: FUROSEMIDE
     Dosage: 1 DOSAGE FORM, QD (1 EVERY 1 DAYS)
     Route: 065
  829. FUROSEMIDE [Suspect]
     Active Substance: FUROSEMIDE
  830. FUROSEMIDE [Suspect]
     Active Substance: FUROSEMIDE
  831. FUROSEMIDE [Suspect]
     Active Substance: FUROSEMIDE
     Route: 065
  832. FUROSEMIDE [Suspect]
     Active Substance: FUROSEMIDE
     Route: 065
  833. FUROSEMIDE [Suspect]
     Active Substance: FUROSEMIDE
     Dosage: 40 MILLIGRAM, QD (1 EVERY 1 DAYS)
  834. FUROSEMIDE [Suspect]
     Active Substance: FUROSEMIDE
     Dosage: 40 MILLIGRAM, QD (1 EVERY 1 DAYS)
  835. FUROSEMIDE [Suspect]
     Active Substance: FUROSEMIDE
     Dosage: 40 MILLIGRAM, QD (1 EVERY 1 DAYS)
     Route: 065
  836. FUROSEMIDE [Suspect]
     Active Substance: FUROSEMIDE
     Dosage: 40 MILLIGRAM, QD (1 EVERY 1 DAYS)
     Route: 065
  837. FUROSEMIDE [Suspect]
     Active Substance: FUROSEMIDE
     Dosage: UNK, QD (1 EVERY 1 DAYS)
  838. FUROSEMIDE [Suspect]
     Active Substance: FUROSEMIDE
     Dosage: UNK, QD (1 EVERY 1 DAYS)
  839. FUROSEMIDE [Suspect]
     Active Substance: FUROSEMIDE
     Dosage: UNK, QD (1 EVERY 1 DAYS)
     Route: 065
  840. FUROSEMIDE [Suspect]
     Active Substance: FUROSEMIDE
     Dosage: UNK, QD (1 EVERY 1 DAYS)
     Route: 065
  841. FUROSEMIDE [Suspect]
     Active Substance: FUROSEMIDE
     Dosage: 2 DOSAGE FORM, QD (1 EVERY 1 DAYS)
  842. FUROSEMIDE [Suspect]
     Active Substance: FUROSEMIDE
     Dosage: 2 DOSAGE FORM, QD (1 EVERY 1 DAYS)
     Route: 065
  843. FUROSEMIDE [Suspect]
     Active Substance: FUROSEMIDE
     Dosage: 2 DOSAGE FORM, QD (1 EVERY 1 DAYS)
  844. FUROSEMIDE [Suspect]
     Active Substance: FUROSEMIDE
     Dosage: 2 DOSAGE FORM, QD (1 EVERY 1 DAYS)
     Route: 065
  845. GLUCAGON [Suspect]
     Active Substance: GLUCAGON
     Indication: Product used for unknown indication
  846. GLUCAGON [Suspect]
     Active Substance: GLUCAGON
  847. GLUCAGON [Suspect]
     Active Substance: GLUCAGON
     Route: 065
  848. GLUCAGON [Suspect]
     Active Substance: GLUCAGON
     Route: 065
  849. GLUCAGON [Suspect]
     Active Substance: GLUCAGON
  850. GLUCAGON [Suspect]
     Active Substance: GLUCAGON
  851. GLUCAGON [Suspect]
     Active Substance: GLUCAGON
     Route: 065
  852. GLUCAGON [Suspect]
     Active Substance: GLUCAGON
     Route: 065
  853. GLUCAGON HYDROCHLORIDE [Suspect]
     Active Substance: GLUCAGON HYDROCHLORIDE
     Indication: Product used for unknown indication
  854. GLUCAGON HYDROCHLORIDE [Suspect]
     Active Substance: GLUCAGON HYDROCHLORIDE
     Route: 065
  855. GLUCAGON HYDROCHLORIDE [Suspect]
     Active Substance: GLUCAGON HYDROCHLORIDE
     Route: 065
  856. GLUCAGON HYDROCHLORIDE [Suspect]
     Active Substance: GLUCAGON HYDROCHLORIDE
  857. LEVOFLOXACIN HEMIHYDRATE [Suspect]
     Active Substance: LEVOFLOXACIN
     Indication: Product used for unknown indication
     Dosage: 1 DOSAGE FORM, QD (1 EVERY 1 DAYS)
     Route: 065
  858. LEVOFLOXACIN HEMIHYDRATE [Suspect]
     Active Substance: LEVOFLOXACIN
     Dosage: 1 DOSAGE FORM, QD (1 EVERY 1 DAYS)
  859. LEVOFLOXACIN HEMIHYDRATE [Suspect]
     Active Substance: LEVOFLOXACIN
     Dosage: 1 DOSAGE FORM, QD (1 EVERY 1 DAYS)
  860. LEVOFLOXACIN HEMIHYDRATE [Suspect]
     Active Substance: LEVOFLOXACIN
     Dosage: 1 DOSAGE FORM, QD (1 EVERY 1 DAYS)
     Route: 065
  861. LEVOFLOXACIN HEMIHYDRATE [Suspect]
     Active Substance: LEVOFLOXACIN
  862. LEVOFLOXACIN HEMIHYDRATE [Suspect]
     Active Substance: LEVOFLOXACIN
  863. LEVOFLOXACIN HEMIHYDRATE [Suspect]
     Active Substance: LEVOFLOXACIN
     Route: 065
  864. LEVOFLOXACIN HEMIHYDRATE [Suspect]
     Active Substance: LEVOFLOXACIN
     Route: 065
  865. LEVOFLOXACIN HEMIHYDRATE [Suspect]
     Active Substance: LEVOFLOXACIN
     Dosage: UNK, QD (1 EVERY 1 DAYS)
     Route: 065
  866. LEVOFLOXACIN HEMIHYDRATE [Suspect]
     Active Substance: LEVOFLOXACIN
     Dosage: UNK, QD (1 EVERY 1 DAYS)
  867. LEVOFLOXACIN HEMIHYDRATE [Suspect]
     Active Substance: LEVOFLOXACIN
     Dosage: UNK, QD (1 EVERY 1 DAYS)
  868. LEVOFLOXACIN HEMIHYDRATE [Suspect]
     Active Substance: LEVOFLOXACIN
     Dosage: UNK, QD (1 EVERY 1 DAYS)
     Route: 065
  869. LEVOFLOXACIN HEMIHYDRATE [Suspect]
     Active Substance: LEVOFLOXACIN
  870. LEVOFLOXACIN HEMIHYDRATE [Suspect]
     Active Substance: LEVOFLOXACIN
  871. LEVOFLOXACIN HEMIHYDRATE [Suspect]
     Active Substance: LEVOFLOXACIN
     Route: 065
  872. LEVOFLOXACIN HEMIHYDRATE [Suspect]
     Active Substance: LEVOFLOXACIN
     Route: 065
  873. LEVOFLOXACIN HEMIHYDRATE [Suspect]
     Active Substance: LEVOFLOXACIN
     Dosage: 50 MILLIGRAM, QD (1 EVERY 24 HOURS)
  874. LEVOFLOXACIN HEMIHYDRATE [Suspect]
     Active Substance: LEVOFLOXACIN
     Dosage: 50 MILLIGRAM, QD (1 EVERY 24 HOURS)
  875. LEVOFLOXACIN HEMIHYDRATE [Suspect]
     Active Substance: LEVOFLOXACIN
     Dosage: 50 MILLIGRAM, QD (1 EVERY 24 HOURS)
     Route: 065
  876. LEVOFLOXACIN HEMIHYDRATE [Suspect]
     Active Substance: LEVOFLOXACIN
     Dosage: 50 MILLIGRAM, QD (1 EVERY 24 HOURS)
     Route: 065
  877. LEVOFLOXACIN HEMIHYDRATE [Suspect]
     Active Substance: LEVOFLOXACIN
     Dosage: 3 DOSAGE FORM, QD (1 EVERY 1 DAYS)
  878. LEVOFLOXACIN HEMIHYDRATE [Suspect]
     Active Substance: LEVOFLOXACIN
     Dosage: 3 DOSAGE FORM, QD (1 EVERY 1 DAYS)
     Route: 065
  879. LEVOFLOXACIN HEMIHYDRATE [Suspect]
     Active Substance: LEVOFLOXACIN
     Dosage: 3 DOSAGE FORM, QD (1 EVERY 1 DAYS)
  880. LEVOFLOXACIN HEMIHYDRATE [Suspect]
     Active Substance: LEVOFLOXACIN
     Dosage: 3 DOSAGE FORM, QD (1 EVERY 1 DAYS)
     Route: 065
  881. LIRAGLUTIDE [Suspect]
     Active Substance: LIRAGLUTIDE
     Indication: Product used for unknown indication
  882. LIRAGLUTIDE [Suspect]
     Active Substance: LIRAGLUTIDE
     Route: 065
  883. LIRAGLUTIDE [Suspect]
     Active Substance: LIRAGLUTIDE
     Route: 065
  884. LIRAGLUTIDE [Suspect]
     Active Substance: LIRAGLUTIDE
  885. MAGNESIUM OXIDE [Suspect]
     Active Substance: MAGNESIUM OXIDE
     Indication: Product used for unknown indication
  886. MAGNESIUM OXIDE [Suspect]
     Active Substance: MAGNESIUM OXIDE
     Route: 065
  887. MAGNESIUM OXIDE [Suspect]
     Active Substance: MAGNESIUM OXIDE
     Route: 065
  888. MAGNESIUM OXIDE [Suspect]
     Active Substance: MAGNESIUM OXIDE
  889. MAGNESIUM OXIDE [Suspect]
     Active Substance: MAGNESIUM OXIDE
     Indication: Product used for unknown indication
     Dosage: 2 DOSAGE FORM, QD (1 EVERY 1 DAYS)
  890. MAGNESIUM OXIDE [Suspect]
     Active Substance: MAGNESIUM OXIDE
     Dosage: 2 DOSAGE FORM, QD (1 EVERY 1 DAYS)
  891. MAGNESIUM OXIDE [Suspect]
     Active Substance: MAGNESIUM OXIDE
     Dosage: 2 DOSAGE FORM, QD (1 EVERY 1 DAYS)
     Route: 065
  892. MAGNESIUM OXIDE [Suspect]
     Active Substance: MAGNESIUM OXIDE
     Dosage: 2 DOSAGE FORM, QD (1 EVERY 1 DAYS)
     Route: 065
  893. MAGNESIUM OXIDE [Suspect]
     Active Substance: MAGNESIUM OXIDE
     Dosage: 1 DOSAGE FORM, QD (1 EVERY 1 DAYS)
  894. MAGNESIUM OXIDE [Suspect]
     Active Substance: MAGNESIUM OXIDE
     Dosage: 1 DOSAGE FORM, QD (1 EVERY 1 DAYS)
  895. MAGNESIUM OXIDE [Suspect]
     Active Substance: MAGNESIUM OXIDE
     Dosage: 1 DOSAGE FORM, QD (1 EVERY 1 DAYS)
     Route: 065
  896. MAGNESIUM OXIDE [Suspect]
     Active Substance: MAGNESIUM OXIDE
     Dosage: 1 DOSAGE FORM, QD (1 EVERY 1 DAYS)
     Route: 065
  897. MAGNESIUM OXIDE [Suspect]
     Active Substance: MAGNESIUM OXIDE
     Dosage: UNK, BID (2 EVERY 1 DAYS)
  898. MAGNESIUM OXIDE [Suspect]
     Active Substance: MAGNESIUM OXIDE
     Dosage: UNK, BID (2 EVERY 1 DAYS)
  899. MAGNESIUM OXIDE [Suspect]
     Active Substance: MAGNESIUM OXIDE
     Dosage: UNK, BID (2 EVERY 1 DAYS)
     Route: 065
  900. MAGNESIUM OXIDE [Suspect]
     Active Substance: MAGNESIUM OXIDE
     Dosage: UNK, BID (2 EVERY 1 DAYS)
     Route: 065
  901. MAGNESIUM OXIDE [Suspect]
     Active Substance: MAGNESIUM OXIDE
     Route: 065
  902. MAGNESIUM OXIDE [Suspect]
     Active Substance: MAGNESIUM OXIDE
  903. MAGNESIUM OXIDE [Suspect]
     Active Substance: MAGNESIUM OXIDE
  904. MAGNESIUM OXIDE [Suspect]
     Active Substance: MAGNESIUM OXIDE
     Route: 065
  905. MAGNESIUM OXIDE [Suspect]
     Active Substance: MAGNESIUM OXIDE
     Dosage: 420 MILLIGRAM, BID (2 EVERY 1 DAYS)
  906. MAGNESIUM OXIDE [Suspect]
     Active Substance: MAGNESIUM OXIDE
     Dosage: 420 MILLIGRAM, BID (2 EVERY 1 DAYS)
     Route: 065
  907. MAGNESIUM OXIDE [Suspect]
     Active Substance: MAGNESIUM OXIDE
     Dosage: 420 MILLIGRAM, BID (2 EVERY 1 DAYS)
  908. MAGNESIUM OXIDE [Suspect]
     Active Substance: MAGNESIUM OXIDE
     Dosage: 420 MILLIGRAM, BID (2 EVERY 1 DAYS)
     Route: 065
  909. MAGNESIUM OXIDE [Suspect]
     Active Substance: MAGNESIUM OXIDE
     Dosage: UNK, QD (1 EVERY 1 DAYS)
     Route: 065
  910. MAGNESIUM OXIDE [Suspect]
     Active Substance: MAGNESIUM OXIDE
     Dosage: UNK, QD (1 EVERY 1 DAYS)
     Route: 065
  911. MAGNESIUM OXIDE [Suspect]
     Active Substance: MAGNESIUM OXIDE
     Dosage: UNK, QD (1 EVERY 1 DAYS)
  912. MAGNESIUM OXIDE [Suspect]
     Active Substance: MAGNESIUM OXIDE
     Dosage: UNK, QD (1 EVERY 1 DAYS)
  913. MAGNESIUM OXIDE [Suspect]
     Active Substance: MAGNESIUM OXIDE
     Route: 065
  914. MAGNESIUM OXIDE [Suspect]
     Active Substance: MAGNESIUM OXIDE
  915. MAGNESIUM OXIDE [Suspect]
     Active Substance: MAGNESIUM OXIDE
     Route: 065
  916. MAGNESIUM OXIDE [Suspect]
     Active Substance: MAGNESIUM OXIDE
  917. MAGNESIUM OXIDE [Suspect]
     Active Substance: MAGNESIUM OXIDE
     Route: 065
  918. MAGNESIUM OXIDE [Suspect]
     Active Substance: MAGNESIUM OXIDE
  919. MAGNESIUM OXIDE [Suspect]
     Active Substance: MAGNESIUM OXIDE
  920. MAGNESIUM OXIDE [Suspect]
     Active Substance: MAGNESIUM OXIDE
     Route: 065
  921. MAGNESIUM OXIDE [Suspect]
     Active Substance: MAGNESIUM OXIDE
  922. MAGNESIUM OXIDE [Suspect]
     Active Substance: MAGNESIUM OXIDE
     Route: 065
  923. MAGNESIUM OXIDE [Suspect]
     Active Substance: MAGNESIUM OXIDE
     Route: 065
  924. MAGNESIUM OXIDE [Suspect]
     Active Substance: MAGNESIUM OXIDE
  925. MAGNESIUM OXIDE [Suspect]
     Active Substance: MAGNESIUM OXIDE
     Dosage: 1 DOSAGE FORM, QD (1 EVERY 1 DAYS)
  926. MAGNESIUM OXIDE [Suspect]
     Active Substance: MAGNESIUM OXIDE
     Dosage: 1 DOSAGE FORM, QD (1 EVERY 1 DAYS)
  927. MAGNESIUM OXIDE [Suspect]
     Active Substance: MAGNESIUM OXIDE
     Dosage: 1 DOSAGE FORM, QD (1 EVERY 1 DAYS)
     Route: 065
  928. MAGNESIUM OXIDE [Suspect]
     Active Substance: MAGNESIUM OXIDE
     Dosage: 1 DOSAGE FORM, QD (1 EVERY 1 DAYS)
     Route: 065
  929. MAGNESIUM OXIDE [Suspect]
     Active Substance: MAGNESIUM OXIDE
     Dosage: 4 DOSAGE FORM, QD (1 EVERY 1 DAYS)
  930. MAGNESIUM OXIDE [Suspect]
     Active Substance: MAGNESIUM OXIDE
     Dosage: 4 DOSAGE FORM, QD (1 EVERY 1 DAYS)
  931. MAGNESIUM OXIDE [Suspect]
     Active Substance: MAGNESIUM OXIDE
     Dosage: 4 DOSAGE FORM, QD (1 EVERY 1 DAYS)
     Route: 065
  932. MAGNESIUM OXIDE [Suspect]
     Active Substance: MAGNESIUM OXIDE
     Dosage: 4 DOSAGE FORM, QD (1 EVERY 1 DAYS)
     Route: 065
  933. METFORMIN HYDROCHLORIDE [Suspect]
     Active Substance: METFORMIN HYDROCHLORIDE
     Indication: Product used for unknown indication
     Dosage: 500 MILLIGRAM, BID (2 EVERY 1 DAYS)
  934. METFORMIN HYDROCHLORIDE [Suspect]
     Active Substance: METFORMIN HYDROCHLORIDE
     Dosage: 500 MILLIGRAM, BID (2 EVERY 1 DAYS)
  935. METFORMIN HYDROCHLORIDE [Suspect]
     Active Substance: METFORMIN HYDROCHLORIDE
     Dosage: 500 MILLIGRAM, BID (2 EVERY 1 DAYS)
     Route: 065
  936. METFORMIN HYDROCHLORIDE [Suspect]
     Active Substance: METFORMIN HYDROCHLORIDE
     Dosage: 500 MILLIGRAM, BID (2 EVERY 1 DAYS)
     Route: 065
  937. METFORMIN HYDROCHLORIDE [Suspect]
     Active Substance: METFORMIN HYDROCHLORIDE
     Dosage: UNK, QD (1 EVERY 1 DAY)
  938. METFORMIN HYDROCHLORIDE [Suspect]
     Active Substance: METFORMIN HYDROCHLORIDE
     Dosage: UNK, QD (1 EVERY 1 DAY)
  939. METFORMIN HYDROCHLORIDE [Suspect]
     Active Substance: METFORMIN HYDROCHLORIDE
     Dosage: UNK, QD (1 EVERY 1 DAY)
     Route: 065
  940. METFORMIN HYDROCHLORIDE [Suspect]
     Active Substance: METFORMIN HYDROCHLORIDE
     Dosage: UNK, QD (1 EVERY 1 DAY)
     Route: 065
  941. METFORMIN HYDROCHLORIDE [Suspect]
     Active Substance: METFORMIN HYDROCHLORIDE
     Dosage: 1 DOSAGE FORM, QD (1 EVERY 1 DAY)
  942. METFORMIN HYDROCHLORIDE [Suspect]
     Active Substance: METFORMIN HYDROCHLORIDE
     Dosage: 1 DOSAGE FORM, QD (1 EVERY 1 DAY)
     Route: 065
  943. METFORMIN HYDROCHLORIDE [Suspect]
     Active Substance: METFORMIN HYDROCHLORIDE
     Dosage: 1 DOSAGE FORM, QD (1 EVERY 1 DAY)
  944. METFORMIN HYDROCHLORIDE [Suspect]
     Active Substance: METFORMIN HYDROCHLORIDE
     Dosage: 1 DOSAGE FORM, QD (1 EVERY 1 DAY)
     Route: 065
  945. METFORMIN HYDROCHLORIDE [Suspect]
     Active Substance: METFORMIN HYDROCHLORIDE
  946. METFORMIN HYDROCHLORIDE [Suspect]
     Active Substance: METFORMIN HYDROCHLORIDE
  947. METFORMIN HYDROCHLORIDE [Suspect]
     Active Substance: METFORMIN HYDROCHLORIDE
     Route: 065
  948. METFORMIN HYDROCHLORIDE [Suspect]
     Active Substance: METFORMIN HYDROCHLORIDE
     Route: 065
  949. METFORMIN HYDROCHLORIDE [Suspect]
     Active Substance: METFORMIN HYDROCHLORIDE
     Dosage: UNK, BID (2 EVERY 1 DAY)
  950. METFORMIN HYDROCHLORIDE [Suspect]
     Active Substance: METFORMIN HYDROCHLORIDE
     Dosage: UNK, BID (2 EVERY 1 DAY)
  951. METFORMIN HYDROCHLORIDE [Suspect]
     Active Substance: METFORMIN HYDROCHLORIDE
     Dosage: UNK, BID (2 EVERY 1 DAY)
     Route: 065
  952. METFORMIN HYDROCHLORIDE [Suspect]
     Active Substance: METFORMIN HYDROCHLORIDE
     Dosage: UNK, BID (2 EVERY 1 DAY)
     Route: 065
  953. METFORMIN HYDROCHLORIDE [Suspect]
     Active Substance: METFORMIN HYDROCHLORIDE
     Dosage: 2 DOSAGE FORM, QD (1 EVERY 1 DAY)
  954. METFORMIN HYDROCHLORIDE [Suspect]
     Active Substance: METFORMIN HYDROCHLORIDE
     Dosage: 2 DOSAGE FORM, QD (1 EVERY 1 DAY)
  955. METFORMIN HYDROCHLORIDE [Suspect]
     Active Substance: METFORMIN HYDROCHLORIDE
     Dosage: 2 DOSAGE FORM, QD (1 EVERY 1 DAY)
     Route: 065
  956. METFORMIN HYDROCHLORIDE [Suspect]
     Active Substance: METFORMIN HYDROCHLORIDE
     Dosage: 2 DOSAGE FORM, QD (1 EVERY 1 DAY)
     Route: 065
  957. METFORMIN HYDROCHLORIDE [Suspect]
     Active Substance: METFORMIN HYDROCHLORIDE
     Dosage: 4 DOSAGE FORM, QD (1 EVERY 1 DAY)
  958. METFORMIN HYDROCHLORIDE [Suspect]
     Active Substance: METFORMIN HYDROCHLORIDE
     Dosage: 4 DOSAGE FORM, QD (1 EVERY 1 DAY)
  959. METFORMIN HYDROCHLORIDE [Suspect]
     Active Substance: METFORMIN HYDROCHLORIDE
     Dosage: 4 DOSAGE FORM, QD (1 EVERY 1 DAY)
     Route: 065
  960. METFORMIN HYDROCHLORIDE [Suspect]
     Active Substance: METFORMIN HYDROCHLORIDE
     Dosage: 4 DOSAGE FORM, QD (1 EVERY 1 DAY)
     Route: 065
  961. MOMETASONE FUROATE [Suspect]
     Active Substance: MOMETASONE FUROATE
     Indication: Product used for unknown indication
  962. MOMETASONE FUROATE [Suspect]
     Active Substance: MOMETASONE FUROATE
     Route: 065
  963. MOMETASONE FUROATE [Suspect]
     Active Substance: MOMETASONE FUROATE
     Route: 065
  964. MOMETASONE FUROATE [Suspect]
     Active Substance: MOMETASONE FUROATE
  965. MONTELUKAST SODIUM [Suspect]
     Active Substance: MONTELUKAST SODIUM
     Indication: Product used for unknown indication
  966. MONTELUKAST SODIUM [Suspect]
     Active Substance: MONTELUKAST SODIUM
     Route: 065
  967. MONTELUKAST SODIUM [Suspect]
     Active Substance: MONTELUKAST SODIUM
     Route: 065
  968. MONTELUKAST SODIUM [Suspect]
     Active Substance: MONTELUKAST SODIUM
  969. MORNIFLUMATE [Suspect]
     Active Substance: MORNIFLUMATE
     Indication: Product used for unknown indication
  970. MORNIFLUMATE [Suspect]
     Active Substance: MORNIFLUMATE
     Route: 065
  971. MORNIFLUMATE [Suspect]
     Active Substance: MORNIFLUMATE
     Route: 065
  972. MORNIFLUMATE [Suspect]
     Active Substance: MORNIFLUMATE
  973. MOXIFLOXACIN [Suspect]
     Active Substance: MOXIFLOXACIN
     Indication: Product used for unknown indication
  974. MOXIFLOXACIN [Suspect]
     Active Substance: MOXIFLOXACIN
     Route: 065
  975. MOXIFLOXACIN [Suspect]
     Active Substance: MOXIFLOXACIN
     Route: 065
  976. MOXIFLOXACIN [Suspect]
     Active Substance: MOXIFLOXACIN
  977. NUCALA [Suspect]
     Active Substance: MEPOLIZUMAB
     Indication: Product used for unknown indication
  978. NUCALA [Suspect]
     Active Substance: MEPOLIZUMAB
     Route: 065
  979. NUCALA [Suspect]
     Active Substance: MEPOLIZUMAB
     Route: 065
  980. NUCALA [Suspect]
     Active Substance: MEPOLIZUMAB
  981. PANTOPRAZOLE [Suspect]
     Active Substance: PANTOPRAZOLE
     Indication: Product used for unknown indication
     Dosage: 4 DOSAGE FORM, BID (2 EVERY 1 DAYS)
  982. PANTOPRAZOLE [Suspect]
     Active Substance: PANTOPRAZOLE
     Dosage: 4 DOSAGE FORM, BID (2 EVERY 1 DAYS)
  983. PANTOPRAZOLE [Suspect]
     Active Substance: PANTOPRAZOLE
     Dosage: 4 DOSAGE FORM, BID (2 EVERY 1 DAYS)
     Route: 065
  984. PANTOPRAZOLE [Suspect]
     Active Substance: PANTOPRAZOLE
     Dosage: 4 DOSAGE FORM, BID (2 EVERY 1 DAYS)
     Route: 065
  985. PANTOPRAZOLE [Suspect]
     Active Substance: PANTOPRAZOLE
     Dosage: 1 DOSAGE FORM, BID (2 EVERY 1 DAYS)
  986. PANTOPRAZOLE [Suspect]
     Active Substance: PANTOPRAZOLE
     Dosage: 1 DOSAGE FORM, BID (2 EVERY 1 DAYS)
  987. PANTOPRAZOLE [Suspect]
     Active Substance: PANTOPRAZOLE
     Dosage: 1 DOSAGE FORM, BID (2 EVERY 1 DAYS)
     Route: 065
  988. PANTOPRAZOLE [Suspect]
     Active Substance: PANTOPRAZOLE
     Dosage: 1 DOSAGE FORM, BID (2 EVERY 1 DAYS)
     Route: 065
  989. PANTOPRAZOLE [Suspect]
     Active Substance: PANTOPRAZOLE
  990. PANTOPRAZOLE [Suspect]
     Active Substance: PANTOPRAZOLE
     Route: 065
  991. PANTOPRAZOLE [Suspect]
     Active Substance: PANTOPRAZOLE
  992. PANTOPRAZOLE [Suspect]
     Active Substance: PANTOPRAZOLE
     Route: 065
  993. PANTOPRAZOLE MAGNESIUM [Suspect]
     Active Substance: PANTOPRAZOLE MAGNESIUM
     Indication: Product used for unknown indication
     Dosage: 1 DOSAGE FORM, BID (2 EVERY 1 DAY)
  994. PANTOPRAZOLE MAGNESIUM [Suspect]
     Active Substance: PANTOPRAZOLE MAGNESIUM
     Dosage: 1 DOSAGE FORM, BID (2 EVERY 1 DAY)
     Route: 065
  995. PANTOPRAZOLE MAGNESIUM [Suspect]
     Active Substance: PANTOPRAZOLE MAGNESIUM
     Dosage: 1 DOSAGE FORM, BID (2 EVERY 1 DAY)
     Route: 065
  996. PANTOPRAZOLE MAGNESIUM [Suspect]
     Active Substance: PANTOPRAZOLE MAGNESIUM
     Dosage: 1 DOSAGE FORM, BID (2 EVERY 1 DAY)
  997. PANTOPRAZOLE SODIUM [Suspect]
     Active Substance: PANTOPRAZOLE SODIUM
     Indication: Product used for unknown indication
     Dosage: 40 MICROGRAM, BID (2 EVERY 1 DAY)
  998. PANTOPRAZOLE SODIUM [Suspect]
     Active Substance: PANTOPRAZOLE SODIUM
     Dosage: 40 MICROGRAM, BID (2 EVERY 1 DAY)
  999. PANTOPRAZOLE SODIUM [Suspect]
     Active Substance: PANTOPRAZOLE SODIUM
     Dosage: 40 MICROGRAM, BID (2 EVERY 1 DAY)
     Route: 065
  1000. PANTOPRAZOLE SODIUM [Suspect]
     Active Substance: PANTOPRAZOLE SODIUM
     Dosage: 40 MICROGRAM, BID (2 EVERY 1 DAY)
     Route: 065
  1001. PANTOPRAZOLE SODIUM [Suspect]
     Active Substance: PANTOPRAZOLE SODIUM
     Dosage: UNK, BID (2 EVERY 1 DAY)
  1002. PANTOPRAZOLE SODIUM [Suspect]
     Active Substance: PANTOPRAZOLE SODIUM
     Dosage: UNK, BID (2 EVERY 1 DAY)
  1003. PANTOPRAZOLE SODIUM [Suspect]
     Active Substance: PANTOPRAZOLE SODIUM
     Dosage: UNK, BID (2 EVERY 1 DAY)
     Route: 065
  1004. PANTOPRAZOLE SODIUM [Suspect]
     Active Substance: PANTOPRAZOLE SODIUM
     Dosage: UNK, BID (2 EVERY 1 DAY)
     Route: 065
  1005. PANTOPRAZOLE SODIUM [Suspect]
     Active Substance: PANTOPRAZOLE SODIUM
     Dosage: 2 DOSAGE FORM, QD (1 EVERY 1 DAYS)
  1006. PANTOPRAZOLE SODIUM [Suspect]
     Active Substance: PANTOPRAZOLE SODIUM
     Dosage: 2 DOSAGE FORM, QD (1 EVERY 1 DAYS)
     Route: 065
  1007. PANTOPRAZOLE SODIUM [Suspect]
     Active Substance: PANTOPRAZOLE SODIUM
     Dosage: 2 DOSAGE FORM, QD (1 EVERY 1 DAYS)
  1008. PANTOPRAZOLE SODIUM [Suspect]
     Active Substance: PANTOPRAZOLE SODIUM
     Dosage: 2 DOSAGE FORM, QD (1 EVERY 1 DAYS)
     Route: 065
  1009. PENICILLIN V POTASSIUM [Concomitant]
     Active Substance: PENICILLIN V POTASSIUM
     Indication: Product used for unknown indication
  1010. PENICILLIN V POTASSIUM [Concomitant]
     Active Substance: PENICILLIN V POTASSIUM
     Route: 065
  1011. PENICILLIN V POTASSIUM [Concomitant]
     Active Substance: PENICILLIN V POTASSIUM
     Route: 065
  1012. PENICILLIN V POTASSIUM [Concomitant]
     Active Substance: PENICILLIN V POTASSIUM
  1013. AZITHROMYCIN ANHYDROUS [Suspect]
     Active Substance: AZITHROMYCIN ANHYDROUS
     Indication: Product used for unknown indication
  1014. AZITHROMYCIN ANHYDROUS [Suspect]
     Active Substance: AZITHROMYCIN ANHYDROUS
  1015. AZITHROMYCIN ANHYDROUS [Suspect]
     Active Substance: AZITHROMYCIN ANHYDROUS
     Route: 065
  1016. AZITHROMYCIN ANHYDROUS [Suspect]
     Active Substance: AZITHROMYCIN ANHYDROUS
     Route: 065
  1017. AZITHROMYCIN ANHYDROUS [Suspect]
     Active Substance: AZITHROMYCIN ANHYDROUS
     Dosage: UNK, QD (1 EVERY 1 DAY)
  1018. AZITHROMYCIN ANHYDROUS [Suspect]
     Active Substance: AZITHROMYCIN ANHYDROUS
     Dosage: UNK, QD (1 EVERY 1 DAY)
  1019. AZITHROMYCIN ANHYDROUS [Suspect]
     Active Substance: AZITHROMYCIN ANHYDROUS
     Dosage: UNK, QD (1 EVERY 1 DAY)
     Route: 065
  1020. AZITHROMYCIN ANHYDROUS [Suspect]
     Active Substance: AZITHROMYCIN ANHYDROUS
     Dosage: UNK, QD (1 EVERY 1 DAY)
     Route: 065
  1021. AZITHROMYCIN ANHYDROUS [Suspect]
     Active Substance: AZITHROMYCIN ANHYDROUS
     Dosage: 2 DOSAGE FORM, QD (1 EVERY 1 DAY)
  1022. AZITHROMYCIN ANHYDROUS [Suspect]
     Active Substance: AZITHROMYCIN ANHYDROUS
     Dosage: 2 DOSAGE FORM, QD (1 EVERY 1 DAY)
  1023. AZITHROMYCIN ANHYDROUS [Suspect]
     Active Substance: AZITHROMYCIN ANHYDROUS
     Dosage: 2 DOSAGE FORM, QD (1 EVERY 1 DAY)
     Route: 065
  1024. AZITHROMYCIN ANHYDROUS [Suspect]
     Active Substance: AZITHROMYCIN ANHYDROUS
     Dosage: 2 DOSAGE FORM, QD (1 EVERY 1 DAY)
     Route: 065
  1025. AZITHROMYCIN ANHYDROUS [Suspect]
     Active Substance: AZITHROMYCIN ANHYDROUS
     Dosage: UNK, BID (2 EVERY 1 DAY)
  1026. AZITHROMYCIN ANHYDROUS [Suspect]
     Active Substance: AZITHROMYCIN ANHYDROUS
     Dosage: UNK, BID (2 EVERY 1 DAY)
  1027. AZITHROMYCIN ANHYDROUS [Suspect]
     Active Substance: AZITHROMYCIN ANHYDROUS
     Dosage: UNK, BID (2 EVERY 1 DAY)
     Route: 065
  1028. AZITHROMYCIN ANHYDROUS [Suspect]
     Active Substance: AZITHROMYCIN ANHYDROUS
     Dosage: UNK, BID (2 EVERY 1 DAY)
     Route: 065
  1029. AZITHROMYCIN ANHYDROUS [Suspect]
     Active Substance: AZITHROMYCIN ANHYDROUS
     Dosage: 250 MILLIGRAM, QD (1 EVERY 1 DAY)
  1030. AZITHROMYCIN ANHYDROUS [Suspect]
     Active Substance: AZITHROMYCIN ANHYDROUS
     Dosage: 250 MILLIGRAM, QD (1 EVERY 1 DAY)
     Route: 065
  1031. AZITHROMYCIN ANHYDROUS [Suspect]
     Active Substance: AZITHROMYCIN ANHYDROUS
     Dosage: 250 MILLIGRAM, QD (1 EVERY 1 DAY)
  1032. AZITHROMYCIN ANHYDROUS [Suspect]
     Active Substance: AZITHROMYCIN ANHYDROUS
     Dosage: 250 MILLIGRAM, QD (1 EVERY 1 DAY)
     Route: 065
  1033. ROSUVASTATIN [Concomitant]
     Active Substance: ROSUVASTATIN
     Indication: Product used for unknown indication
     Route: 065
  1034. ROSUVASTATIN [Concomitant]
     Active Substance: ROSUVASTATIN
  1035. ROSUVASTATIN [Concomitant]
     Active Substance: ROSUVASTATIN
  1036. ROSUVASTATIN [Concomitant]
     Active Substance: ROSUVASTATIN
     Route: 065
  1037. ROSUVASTATIN [Concomitant]
     Active Substance: ROSUVASTATIN
     Route: 058
  1038. ROSUVASTATIN [Concomitant]
     Active Substance: ROSUVASTATIN
  1039. ROSUVASTATIN [Concomitant]
     Active Substance: ROSUVASTATIN
  1040. ROSUVASTATIN [Concomitant]
     Active Substance: ROSUVASTATIN
     Route: 058
  1041. ROSUVASTATIN [Concomitant]
     Active Substance: ROSUVASTATIN
  1042. ROSUVASTATIN [Concomitant]
     Active Substance: ROSUVASTATIN
  1043. ROSUVASTATIN [Concomitant]
     Active Substance: ROSUVASTATIN
     Route: 058
  1044. ROSUVASTATIN [Concomitant]
     Active Substance: ROSUVASTATIN
     Route: 058
  1045. ROSUVASTATIN [Concomitant]
     Active Substance: ROSUVASTATIN
     Dosage: 15 MILLIGRAM, QD (1 EVERY 1 DAY)
  1046. ROSUVASTATIN [Concomitant]
     Active Substance: ROSUVASTATIN
     Dosage: 15 MILLIGRAM, QD (1 EVERY 1 DAY)
  1047. ROSUVASTATIN [Concomitant]
     Active Substance: ROSUVASTATIN
     Dosage: 15 MILLIGRAM, QD (1 EVERY 1 DAY)
     Route: 058
  1048. ROSUVASTATIN [Concomitant]
     Active Substance: ROSUVASTATIN
     Dosage: 15 MILLIGRAM, QD (1 EVERY 1 DAY)
     Route: 058
  1049. RUPATADINE [Suspect]
     Active Substance: RUPATADINE
     Indication: Product used for unknown indication
  1050. RUPATADINE [Suspect]
     Active Substance: RUPATADINE
     Route: 065
  1051. RUPATADINE [Suspect]
     Active Substance: RUPATADINE
     Route: 065
  1052. RUPATADINE [Suspect]
     Active Substance: RUPATADINE
  1053. ALBUTEROL [Suspect]
     Active Substance: ALBUTEROL
     Indication: Asthma
  1054. ALBUTEROL [Suspect]
     Active Substance: ALBUTEROL
     Indication: Eosinophilic granulomatosis with polyangiitis
  1055. ALBUTEROL [Suspect]
     Active Substance: ALBUTEROL
     Route: 065
  1056. ALBUTEROL [Suspect]
     Active Substance: ALBUTEROL
     Route: 065
  1057. ALBUTEROL [Suspect]
     Active Substance: ALBUTEROL
     Dosage: 2 DOSAGE FORM, QD (1 EVERY 1 DAYS)
  1058. ALBUTEROL [Suspect]
     Active Substance: ALBUTEROL
     Dosage: 2 DOSAGE FORM, QD (1 EVERY 1 DAYS)
  1059. ALBUTEROL [Suspect]
     Active Substance: ALBUTEROL
     Dosage: 2 DOSAGE FORM, QD (1 EVERY 1 DAYS)
     Route: 065
  1060. ALBUTEROL [Suspect]
     Active Substance: ALBUTEROL
     Dosage: 2 DOSAGE FORM, QD (1 EVERY 1 DAYS)
     Route: 065
  1061. ALBUTEROL [Suspect]
     Active Substance: ALBUTEROL
  1062. ALBUTEROL [Suspect]
     Active Substance: ALBUTEROL
     Route: 065
  1063. ALBUTEROL [Suspect]
     Active Substance: ALBUTEROL
  1064. ALBUTEROL [Suspect]
     Active Substance: ALBUTEROL
     Route: 065
  1065. ALBUTEROL [Suspect]
     Active Substance: ALBUTEROL
     Indication: Asthma
     Dosage: 1 MICROGRAM, QD (1 EVERY 1 DAY)
  1066. ALBUTEROL [Suspect]
     Active Substance: ALBUTEROL
     Indication: Eosinophilic granulomatosis with polyangiitis
     Dosage: 1 MICROGRAM, QD (1 EVERY 1 DAY)
  1067. ALBUTEROL [Suspect]
     Active Substance: ALBUTEROL
     Dosage: 1 MICROGRAM, QD (1 EVERY 1 DAY)
     Route: 065
  1068. ALBUTEROL [Suspect]
     Active Substance: ALBUTEROL
     Dosage: 1 MICROGRAM, QD (1 EVERY 1 DAY)
     Route: 065
  1069. ALBUTEROL [Suspect]
     Active Substance: ALBUTEROL
     Dosage: 1 DOSAGE FORM, QD (1 EVERY 1 DAY)
  1070. ALBUTEROL [Suspect]
     Active Substance: ALBUTEROL
     Dosage: 1 DOSAGE FORM, QD (1 EVERY 1 DAY)
  1071. ALBUTEROL [Suspect]
     Active Substance: ALBUTEROL
     Dosage: 1 DOSAGE FORM, QD (1 EVERY 1 DAY)
     Route: 065
  1072. ALBUTEROL [Suspect]
     Active Substance: ALBUTEROL
     Dosage: 1 DOSAGE FORM, QD (1 EVERY 1 DAY)
     Route: 065
  1073. ALBUTEROL [Suspect]
     Active Substance: ALBUTEROL
  1074. ALBUTEROL [Suspect]
     Active Substance: ALBUTEROL
     Route: 065
  1075. ALBUTEROL [Suspect]
     Active Substance: ALBUTEROL
  1076. ALBUTEROL [Suspect]
     Active Substance: ALBUTEROL
     Route: 065
  1077. ALBUTEROL [Concomitant]
     Active Substance: ALBUTEROL
     Indication: Product used for unknown indication
  1078. ALBUTEROL [Concomitant]
     Active Substance: ALBUTEROL
     Route: 065
  1079. ALBUTEROL [Concomitant]
     Active Substance: ALBUTEROL
     Route: 065
  1080. ALBUTEROL [Concomitant]
     Active Substance: ALBUTEROL
  1081. LEVOFLOXACIN [Suspect]
     Active Substance: LEVOFLOXACIN
     Indication: Product used for unknown indication
     Route: 065
  1082. LEVOFLOXACIN [Suspect]
     Active Substance: LEVOFLOXACIN
  1083. LEVOFLOXACIN [Suspect]
     Active Substance: LEVOFLOXACIN
  1084. LEVOFLOXACIN [Suspect]
     Active Substance: LEVOFLOXACIN
     Route: 065
  1085. LEVOFLOXACIN [Suspect]
     Active Substance: LEVOFLOXACIN
     Route: 065
  1086. LEVOFLOXACIN [Suspect]
     Active Substance: LEVOFLOXACIN
  1087. LEVOFLOXACIN [Suspect]
     Active Substance: LEVOFLOXACIN
  1088. LEVOFLOXACIN [Suspect]
     Active Substance: LEVOFLOXACIN
     Route: 065
  1089. LEVOFLOXACIN [Suspect]
     Active Substance: LEVOFLOXACIN
     Dosage: 750 MILLIGRAM, QD (1 EVERY 1 DAY)
  1090. LEVOFLOXACIN [Suspect]
     Active Substance: LEVOFLOXACIN
     Dosage: 750 MILLIGRAM, QD (1 EVERY 1 DAY)
  1091. LEVOFLOXACIN [Suspect]
     Active Substance: LEVOFLOXACIN
     Dosage: 750 MILLIGRAM, QD (1 EVERY 1 DAY)
     Route: 065
  1092. LEVOFLOXACIN [Suspect]
     Active Substance: LEVOFLOXACIN
     Dosage: 750 MILLIGRAM, QD (1 EVERY 1 DAY)
     Route: 065
  1093. LEVOFLOXACIN [Suspect]
     Active Substance: LEVOFLOXACIN
     Dosage: 500 MILLIGRAM, QD (1 EVERY 24 HOURS, 1 EVERY 1 DAY)
  1094. LEVOFLOXACIN [Suspect]
     Active Substance: LEVOFLOXACIN
     Dosage: 500 MILLIGRAM, QD (1 EVERY 24 HOURS, 1 EVERY 1 DAY)
  1095. LEVOFLOXACIN [Suspect]
     Active Substance: LEVOFLOXACIN
     Dosage: 500 MILLIGRAM, QD (1 EVERY 24 HOURS, 1 EVERY 1 DAY)
     Route: 065
  1096. LEVOFLOXACIN [Suspect]
     Active Substance: LEVOFLOXACIN
     Dosage: 500 MILLIGRAM, QD (1 EVERY 24 HOURS, 1 EVERY 1 DAY)
     Route: 065
  1097. SENNOSIDES [Suspect]
     Active Substance: SENNOSIDES
     Indication: Product used for unknown indication
  1098. SENNOSIDES [Suspect]
     Active Substance: SENNOSIDES
     Route: 065
  1099. SENNOSIDES [Suspect]
     Active Substance: SENNOSIDES
     Route: 065
  1100. SENNOSIDES [Suspect]
     Active Substance: SENNOSIDES
  1101. SEPTRA [Suspect]
     Active Substance: SULFAMETHOXAZOLE\TRIMETHOPRIM
     Indication: Prophylaxis
  1102. SEPTRA [Suspect]
     Active Substance: SULFAMETHOXAZOLE\TRIMETHOPRIM
  1103. SEPTRA [Suspect]
     Active Substance: SULFAMETHOXAZOLE\TRIMETHOPRIM
     Route: 042
  1104. SEPTRA [Suspect]
     Active Substance: SULFAMETHOXAZOLE\TRIMETHOPRIM
     Route: 042
  1105. SEPTRA [Suspect]
     Active Substance: SULFAMETHOXAZOLE\TRIMETHOPRIM
  1106. SEPTRA [Suspect]
     Active Substance: SULFAMETHOXAZOLE\TRIMETHOPRIM
  1107. SEPTRA [Suspect]
     Active Substance: SULFAMETHOXAZOLE\TRIMETHOPRIM
     Route: 065
  1108. SEPTRA [Suspect]
     Active Substance: SULFAMETHOXAZOLE\TRIMETHOPRIM
     Route: 065
  1109. SEPTRA [Suspect]
     Active Substance: SULFAMETHOXAZOLE\TRIMETHOPRIM
     Dosage: 3 DOSAGE FORM, QW (1 EVERY 1 WEEKS)
  1110. SEPTRA [Suspect]
     Active Substance: SULFAMETHOXAZOLE\TRIMETHOPRIM
     Dosage: 3 DOSAGE FORM, QW (1 EVERY 1 WEEKS)
     Route: 065
  1111. SEPTRA [Suspect]
     Active Substance: SULFAMETHOXAZOLE\TRIMETHOPRIM
     Dosage: 3 DOSAGE FORM, QW (1 EVERY 1 WEEKS)
  1112. SEPTRA [Suspect]
     Active Substance: SULFAMETHOXAZOLE\TRIMETHOPRIM
     Dosage: 3 DOSAGE FORM, QW (1 EVERY 1 WEEKS)
     Route: 065
  1113. SPIRIVA [Suspect]
     Active Substance: TIOTROPIUM BROMIDE MONOHYDRATE
     Indication: Product used for unknown indication
     Dosage: 2 DOSAGE FORM, QD (1 EVERY 1 DAYS)
  1114. SPIRIVA [Suspect]
     Active Substance: TIOTROPIUM BROMIDE MONOHYDRATE
     Dosage: 2 DOSAGE FORM, QD (1 EVERY 1 DAYS)
  1115. SPIRIVA [Suspect]
     Active Substance: TIOTROPIUM BROMIDE MONOHYDRATE
     Dosage: 2 DOSAGE FORM, QD (1 EVERY 1 DAYS)
     Route: 065
  1116. SPIRIVA [Suspect]
     Active Substance: TIOTROPIUM BROMIDE MONOHYDRATE
     Dosage: 2 DOSAGE FORM, QD (1 EVERY 1 DAYS)
     Route: 065
  1117. SPIRIVA [Suspect]
     Active Substance: TIOTROPIUM BROMIDE MONOHYDRATE
  1118. SPIRIVA [Suspect]
     Active Substance: TIOTROPIUM BROMIDE MONOHYDRATE
  1119. SPIRIVA [Suspect]
     Active Substance: TIOTROPIUM BROMIDE MONOHYDRATE
     Route: 065
  1120. SPIRIVA [Suspect]
     Active Substance: TIOTROPIUM BROMIDE MONOHYDRATE
     Route: 065
  1121. SPIRIVA [Suspect]
     Active Substance: TIOTROPIUM BROMIDE MONOHYDRATE
  1122. SPIRIVA [Suspect]
     Active Substance: TIOTROPIUM BROMIDE MONOHYDRATE
     Route: 065
  1123. SPIRIVA [Suspect]
     Active Substance: TIOTROPIUM BROMIDE MONOHYDRATE
  1124. SPIRIVA [Suspect]
     Active Substance: TIOTROPIUM BROMIDE MONOHYDRATE
     Route: 065
  1125. SULFADIAZINE [Suspect]
     Active Substance: SULFADIAZINE
     Indication: Product used for unknown indication
  1126. SULFADIAZINE [Suspect]
     Active Substance: SULFADIAZINE
     Route: 065
  1127. SULFADIAZINE [Suspect]
     Active Substance: SULFADIAZINE
     Route: 065
  1128. SULFADIAZINE [Suspect]
     Active Substance: SULFADIAZINE
  1129. SULFAMETHOXAZOLE\TRIMETHOPRIM [Suspect]
     Active Substance: SULFAMETHOXAZOLE\TRIMETHOPRIM
     Indication: Product used for unknown indication
  1130. SULFAMETHOXAZOLE\TRIMETHOPRIM [Suspect]
     Active Substance: SULFAMETHOXAZOLE\TRIMETHOPRIM
     Route: 065
  1131. SULFAMETHOXAZOLE\TRIMETHOPRIM [Suspect]
     Active Substance: SULFAMETHOXAZOLE\TRIMETHOPRIM
     Route: 065
  1132. SULFAMETHOXAZOLE\TRIMETHOPRIM [Suspect]
     Active Substance: SULFAMETHOXAZOLE\TRIMETHOPRIM
  1133. SULFATRIM [Concomitant]
     Active Substance: SULFAMETHOXAZOLE\TRIMETHOPRIM
     Indication: Product used for unknown indication
  1134. SULFATRIM [Concomitant]
     Active Substance: SULFAMETHOXAZOLE\TRIMETHOPRIM
     Route: 065
  1135. SULFATRIM [Concomitant]
     Active Substance: SULFAMETHOXAZOLE\TRIMETHOPRIM
     Route: 065
  1136. SULFATRIM [Concomitant]
     Active Substance: SULFAMETHOXAZOLE\TRIMETHOPRIM
  1137. TAMSULOSIN [Suspect]
     Active Substance: TAMSULOSIN
     Indication: Product used for unknown indication
  1138. TAMSULOSIN [Suspect]
     Active Substance: TAMSULOSIN
  1139. TAMSULOSIN [Suspect]
     Active Substance: TAMSULOSIN
     Route: 065
  1140. TAMSULOSIN [Suspect]
     Active Substance: TAMSULOSIN
     Route: 065
  1141. TAMSULOSIN [Suspect]
     Active Substance: TAMSULOSIN
     Dosage: 1 DOSAGE FORM, QD (1 EVERY 1 DAYS)
  1142. TAMSULOSIN [Suspect]
     Active Substance: TAMSULOSIN
     Dosage: 1 DOSAGE FORM, QD (1 EVERY 1 DAYS)
  1143. TAMSULOSIN [Suspect]
     Active Substance: TAMSULOSIN
     Dosage: 1 DOSAGE FORM, QD (1 EVERY 1 DAYS)
     Route: 065
  1144. TAMSULOSIN [Suspect]
     Active Substance: TAMSULOSIN
     Dosage: 1 DOSAGE FORM, QD (1 EVERY 1 DAYS)
     Route: 065
  1145. TAMSULOSIN [Suspect]
     Active Substance: TAMSULOSIN
  1146. TAMSULOSIN [Suspect]
     Active Substance: TAMSULOSIN
     Route: 065
  1147. TAMSULOSIN [Suspect]
     Active Substance: TAMSULOSIN
  1148. TAMSULOSIN [Suspect]
     Active Substance: TAMSULOSIN
     Route: 065
  1149. TAMSULOSIN HYDROCHLORIDE [Suspect]
     Active Substance: TAMSULOSIN HYDROCHLORIDE
     Indication: Product used for unknown indication
  1150. TAMSULOSIN HYDROCHLORIDE [Suspect]
     Active Substance: TAMSULOSIN HYDROCHLORIDE
  1151. TAMSULOSIN HYDROCHLORIDE [Suspect]
     Active Substance: TAMSULOSIN HYDROCHLORIDE
     Route: 065
  1152. TAMSULOSIN HYDROCHLORIDE [Suspect]
     Active Substance: TAMSULOSIN HYDROCHLORIDE
     Route: 065
  1153. TAMSULOSIN HYDROCHLORIDE [Suspect]
     Active Substance: TAMSULOSIN HYDROCHLORIDE
     Dosage: UNK, QD (1 EVERY 1 DAY)
  1154. TAMSULOSIN HYDROCHLORIDE [Suspect]
     Active Substance: TAMSULOSIN HYDROCHLORIDE
     Dosage: UNK, QD (1 EVERY 1 DAY)
  1155. TAMSULOSIN HYDROCHLORIDE [Suspect]
     Active Substance: TAMSULOSIN HYDROCHLORIDE
     Dosage: UNK, QD (1 EVERY 1 DAY)
     Route: 065
  1156. TAMSULOSIN HYDROCHLORIDE [Suspect]
     Active Substance: TAMSULOSIN HYDROCHLORIDE
     Dosage: UNK, QD (1 EVERY 1 DAY)
     Route: 065
  1157. PANTOPRAZOLE MAGNESIUM [Suspect]
     Active Substance: PANTOPRAZOLE MAGNESIUM
     Indication: Product used for unknown indication
     Dosage: 2 DOSAGE FORM, BID (2 EVERY 1 DAY)
     Route: 065
  1158. PANTOPRAZOLE MAGNESIUM [Suspect]
     Active Substance: PANTOPRAZOLE MAGNESIUM
     Dosage: 2 DOSAGE FORM, BID (2 EVERY 1 DAY)
  1159. PANTOPRAZOLE MAGNESIUM [Suspect]
     Active Substance: PANTOPRAZOLE MAGNESIUM
     Dosage: 2 DOSAGE FORM, BID (2 EVERY 1 DAY)
  1160. PANTOPRAZOLE MAGNESIUM [Suspect]
     Active Substance: PANTOPRAZOLE MAGNESIUM
     Dosage: 2 DOSAGE FORM, BID (2 EVERY 1 DAY)
     Route: 065
  1161. PANTOPRAZOLE MAGNESIUM [Suspect]
     Active Substance: PANTOPRAZOLE MAGNESIUM
     Dosage: UNK, BID (2 EVERY 1 DAY)
     Route: 065
  1162. PANTOPRAZOLE MAGNESIUM [Suspect]
     Active Substance: PANTOPRAZOLE MAGNESIUM
     Dosage: UNK, BID (2 EVERY 1 DAY)
  1163. PANTOPRAZOLE MAGNESIUM [Suspect]
     Active Substance: PANTOPRAZOLE MAGNESIUM
     Dosage: UNK, BID (2 EVERY 1 DAY)
  1164. PANTOPRAZOLE MAGNESIUM [Suspect]
     Active Substance: PANTOPRAZOLE MAGNESIUM
     Dosage: UNK, BID (2 EVERY 1 DAY)
     Route: 065
  1165. PANTOPRAZOLE MAGNESIUM [Suspect]
     Active Substance: PANTOPRAZOLE MAGNESIUM
     Dosage: UNK, QD (1 EVERY 1 DAY)
  1166. PANTOPRAZOLE MAGNESIUM [Suspect]
     Active Substance: PANTOPRAZOLE MAGNESIUM
     Dosage: UNK, QD (1 EVERY 1 DAY)
  1167. PANTOPRAZOLE MAGNESIUM [Suspect]
     Active Substance: PANTOPRAZOLE MAGNESIUM
     Dosage: UNK, QD (1 EVERY 1 DAY)
     Route: 065
  1168. PANTOPRAZOLE MAGNESIUM [Suspect]
     Active Substance: PANTOPRAZOLE MAGNESIUM
     Dosage: UNK, QD (1 EVERY 1 DAY)
     Route: 065
  1169. PANTOPRAZOLE MAGNESIUM [Suspect]
     Active Substance: PANTOPRAZOLE MAGNESIUM
     Dosage: 2 DOSAGE FORM, QD (1 EVERY 1 DAY)
  1170. PANTOPRAZOLE MAGNESIUM [Suspect]
     Active Substance: PANTOPRAZOLE MAGNESIUM
     Dosage: 2 DOSAGE FORM, QD (1 EVERY 1 DAY)
  1171. PANTOPRAZOLE MAGNESIUM [Suspect]
     Active Substance: PANTOPRAZOLE MAGNESIUM
     Dosage: 2 DOSAGE FORM, QD (1 EVERY 1 DAY)
     Route: 065
  1172. PANTOPRAZOLE MAGNESIUM [Suspect]
     Active Substance: PANTOPRAZOLE MAGNESIUM
     Dosage: 2 DOSAGE FORM, QD (1 EVERY 1 DAY)
     Route: 065
  1173. TIAZAC [Suspect]
     Active Substance: DILTIAZEM HYDROCHLORIDE
     Indication: Product used for unknown indication
  1174. TIAZAC [Suspect]
     Active Substance: DILTIAZEM HYDROCHLORIDE
     Route: 065
  1175. TIAZAC [Suspect]
     Active Substance: DILTIAZEM HYDROCHLORIDE
     Route: 065
  1176. TIAZAC [Suspect]
     Active Substance: DILTIAZEM HYDROCHLORIDE
  1177. DILTIAZEM HYDROCHLORIDE [Suspect]
     Active Substance: DILTIAZEM HYDROCHLORIDE
     Indication: Product used for unknown indication
  1178. DILTIAZEM HYDROCHLORIDE [Suspect]
     Active Substance: DILTIAZEM HYDROCHLORIDE
     Route: 065
  1179. DILTIAZEM HYDROCHLORIDE [Suspect]
     Active Substance: DILTIAZEM HYDROCHLORIDE
     Route: 065
  1180. DILTIAZEM HYDROCHLORIDE [Suspect]
     Active Substance: DILTIAZEM HYDROCHLORIDE
  1181. TRELEGY ELLIPTA [Suspect]
     Active Substance: FLUTICASONE FUROATE\UMECLIDINIUM BROMIDE\VILANTEROL TRIFENATATE
     Indication: Product used for unknown indication
     Dosage: 1 DOSAGE FORM, QD (1 EVERY 1 DAYS)
  1182. TRELEGY ELLIPTA [Suspect]
     Active Substance: FLUTICASONE FUROATE\UMECLIDINIUM BROMIDE\VILANTEROL TRIFENATATE
     Dosage: 1 DOSAGE FORM, QD (1 EVERY 1 DAYS)
     Route: 065
  1183. TRELEGY ELLIPTA [Suspect]
     Active Substance: FLUTICASONE FUROATE\UMECLIDINIUM BROMIDE\VILANTEROL TRIFENATATE
     Dosage: 1 DOSAGE FORM, QD (1 EVERY 1 DAYS)
     Route: 065
  1184. TRELEGY ELLIPTA [Suspect]
     Active Substance: FLUTICASONE FUROATE\UMECLIDINIUM BROMIDE\VILANTEROL TRIFENATATE
     Dosage: 1 DOSAGE FORM, QD (1 EVERY 1 DAYS)
  1185. TIOTROPIUM BROMIDE MONOHYDRATE [Suspect]
     Active Substance: TIOTROPIUM BROMIDE MONOHYDRATE
     Indication: Product used for unknown indication
     Dosage: 2 DOSAGE FORM, QD (1 EVERY 1 DAYS)
  1186. TIOTROPIUM BROMIDE MONOHYDRATE [Suspect]
     Active Substance: TIOTROPIUM BROMIDE MONOHYDRATE
     Dosage: 2 DOSAGE FORM, QD (1 EVERY 1 DAYS)
  1187. TIOTROPIUM BROMIDE MONOHYDRATE [Suspect]
     Active Substance: TIOTROPIUM BROMIDE MONOHYDRATE
     Dosage: 2 DOSAGE FORM, QD (1 EVERY 1 DAYS)
     Route: 065
  1188. TIOTROPIUM BROMIDE MONOHYDRATE [Suspect]
     Active Substance: TIOTROPIUM BROMIDE MONOHYDRATE
     Dosage: 2 DOSAGE FORM, QD (1 EVERY 1 DAYS)
     Route: 065
  1189. TIOTROPIUM BROMIDE MONOHYDRATE [Suspect]
     Active Substance: TIOTROPIUM BROMIDE MONOHYDRATE
  1190. TIOTROPIUM BROMIDE MONOHYDRATE [Suspect]
     Active Substance: TIOTROPIUM BROMIDE MONOHYDRATE
  1191. TIOTROPIUM BROMIDE MONOHYDRATE [Suspect]
     Active Substance: TIOTROPIUM BROMIDE MONOHYDRATE
     Route: 065
  1192. TIOTROPIUM BROMIDE MONOHYDRATE [Suspect]
     Active Substance: TIOTROPIUM BROMIDE MONOHYDRATE
     Route: 065
  1193. TIOTROPIUM BROMIDE MONOHYDRATE [Suspect]
     Active Substance: TIOTROPIUM BROMIDE MONOHYDRATE
  1194. TIOTROPIUM BROMIDE MONOHYDRATE [Suspect]
     Active Substance: TIOTROPIUM BROMIDE MONOHYDRATE
     Route: 065
  1195. TIOTROPIUM BROMIDE MONOHYDRATE [Suspect]
     Active Substance: TIOTROPIUM BROMIDE MONOHYDRATE
  1196. TIOTROPIUM BROMIDE MONOHYDRATE [Suspect]
     Active Substance: TIOTROPIUM BROMIDE MONOHYDRATE
     Route: 065
  1197. UMECLIDINIUM BROMIDE [Suspect]
     Active Substance: UMECLIDINIUM BROMIDE
     Indication: Product used for unknown indication
     Dosage: 1 DOSAGE FORM, QD (1 EVERY 1 DAYS)
  1198. UMECLIDINIUM BROMIDE [Suspect]
     Active Substance: UMECLIDINIUM BROMIDE
     Dosage: 1 DOSAGE FORM, QD (1 EVERY 1 DAYS)
     Route: 065
  1199. UMECLIDINIUM BROMIDE [Suspect]
     Active Substance: UMECLIDINIUM BROMIDE
     Dosage: 1 DOSAGE FORM, QD (1 EVERY 1 DAYS)
     Route: 065
  1200. UMECLIDINIUM BROMIDE [Suspect]
     Active Substance: UMECLIDINIUM BROMIDE
     Dosage: 1 DOSAGE FORM, QD (1 EVERY 1 DAYS)
  1201. UMECLIDINIUM BROMIDE\VILANTEROL TRIFENATATE [Suspect]
     Active Substance: UMECLIDINIUM BROMIDE\VILANTEROL TRIFENATATE
     Indication: Product used for unknown indication
     Dosage: UNK, QD (1 EVERY 1 DAY)
     Route: 065
  1202. UMECLIDINIUM BROMIDE\VILANTEROL TRIFENATATE [Suspect]
     Active Substance: UMECLIDINIUM BROMIDE\VILANTEROL TRIFENATATE
     Dosage: UNK, QD (1 EVERY 1 DAY)
  1203. UMECLIDINIUM BROMIDE\VILANTEROL TRIFENATATE [Suspect]
     Active Substance: UMECLIDINIUM BROMIDE\VILANTEROL TRIFENATATE
     Dosage: UNK, QD (1 EVERY 1 DAY)
  1204. UMECLIDINIUM BROMIDE\VILANTEROL TRIFENATATE [Suspect]
     Active Substance: UMECLIDINIUM BROMIDE\VILANTEROL TRIFENATATE
     Dosage: UNK, QD (1 EVERY 1 DAY)
     Route: 065
  1205. UMECLIDINIUM BROMIDE\VILANTEROL TRIFENATATE [Suspect]
     Active Substance: UMECLIDINIUM BROMIDE\VILANTEROL TRIFENATATE
     Route: 065
  1206. UMECLIDINIUM BROMIDE\VILANTEROL TRIFENATATE [Suspect]
     Active Substance: UMECLIDINIUM BROMIDE\VILANTEROL TRIFENATATE
  1207. UMECLIDINIUM BROMIDE\VILANTEROL TRIFENATATE [Suspect]
     Active Substance: UMECLIDINIUM BROMIDE\VILANTEROL TRIFENATATE
  1208. UMECLIDINIUM BROMIDE\VILANTEROL TRIFENATATE [Suspect]
     Active Substance: UMECLIDINIUM BROMIDE\VILANTEROL TRIFENATATE
     Route: 065
  1209. UMECLIDINIUM BROMIDE\VILANTEROL TRIFENATATE [Suspect]
     Active Substance: UMECLIDINIUM BROMIDE\VILANTEROL TRIFENATATE
     Dosage: 1 DOSAGE FORM, QD (1 EVERY 1 DAY)
  1210. UMECLIDINIUM BROMIDE\VILANTEROL TRIFENATATE [Suspect]
     Active Substance: UMECLIDINIUM BROMIDE\VILANTEROL TRIFENATATE
     Dosage: 1 DOSAGE FORM, QD (1 EVERY 1 DAY)
  1211. UMECLIDINIUM BROMIDE\VILANTEROL TRIFENATATE [Suspect]
     Active Substance: UMECLIDINIUM BROMIDE\VILANTEROL TRIFENATATE
     Dosage: 1 DOSAGE FORM, QD (1 EVERY 1 DAY)
     Route: 055
  1212. UMECLIDINIUM BROMIDE\VILANTEROL TRIFENATATE [Suspect]
     Active Substance: UMECLIDINIUM BROMIDE\VILANTEROL TRIFENATATE
     Dosage: 1 DOSAGE FORM, QD (1 EVERY 1 DAY)
     Route: 055
  1213. UMECLIDINIUM BROMIDE\VILANTEROL TRIFENATATE [Suspect]
     Active Substance: UMECLIDINIUM BROMIDE\VILANTEROL TRIFENATATE
  1214. UMECLIDINIUM BROMIDE\VILANTEROL TRIFENATATE [Suspect]
     Active Substance: UMECLIDINIUM BROMIDE\VILANTEROL TRIFENATATE
  1215. UMECLIDINIUM BROMIDE\VILANTEROL TRIFENATATE [Suspect]
     Active Substance: UMECLIDINIUM BROMIDE\VILANTEROL TRIFENATATE
     Route: 065
  1216. UMECLIDINIUM BROMIDE\VILANTEROL TRIFENATATE [Suspect]
     Active Substance: UMECLIDINIUM BROMIDE\VILANTEROL TRIFENATATE
     Route: 065
  1217. VITAMIN D3 [Suspect]
     Active Substance: CHOLECALCIFEROL
     Indication: Product used for unknown indication
  1218. VITAMIN D3 [Suspect]
     Active Substance: CHOLECALCIFEROL
  1219. VITAMIN D3 [Suspect]
     Active Substance: CHOLECALCIFEROL
     Route: 065
  1220. VITAMIN D3 [Suspect]
     Active Substance: CHOLECALCIFEROL
     Route: 065
  1221. VITAMIN D3 [Suspect]
     Active Substance: CHOLECALCIFEROL
  1222. VITAMIN D3 [Suspect]
     Active Substance: CHOLECALCIFEROL
  1223. VITAMIN D3 [Suspect]
     Active Substance: CHOLECALCIFEROL
     Route: 065
  1224. VITAMIN D3 [Suspect]
     Active Substance: CHOLECALCIFEROL
     Route: 065
  1225. VITAMIN D3 [Suspect]
     Active Substance: CHOLECALCIFEROL
     Indication: Product used for unknown indication
  1226. VITAMIN D3 [Suspect]
     Active Substance: CHOLECALCIFEROL
     Route: 065
  1227. VITAMIN D3 [Suspect]
     Active Substance: CHOLECALCIFEROL
     Route: 065
  1228. VITAMIN D3 [Suspect]
     Active Substance: CHOLECALCIFEROL
  1229. VITAMIN D [Suspect]
     Active Substance: VITAMIN D NOS
     Indication: Product used for unknown indication
  1230. VITAMIN D [Suspect]
     Active Substance: VITAMIN D NOS
     Route: 065
  1231. VITAMIN D [Suspect]
     Active Substance: VITAMIN D NOS
     Route: 065
  1232. VITAMIN D [Suspect]
     Active Substance: VITAMIN D NOS

REACTIONS (39)
  - Arteriosclerosis coronary artery [Unknown]
  - Antineutrophil cytoplasmic antibody positive [Unknown]
  - Hypoxia [Unknown]
  - Thrombosis [Unknown]
  - Pulmonary embolism [Unknown]
  - Dyspnoea [Unknown]
  - Asthma [Unknown]
  - Condition aggravated [Unknown]
  - Conjunctivitis allergic [Unknown]
  - Dust allergy [Unknown]
  - Full blood count abnormal [Unknown]
  - Mite allergy [Unknown]
  - Mycotic allergy [Unknown]
  - Nodule [Unknown]
  - Normochromic normocytic anaemia [Unknown]
  - Productive cough [Unknown]
  - Sleep disorder due to a general medical condition [Unknown]
  - Spirometry abnormal [Unknown]
  - Wheezing [Unknown]
  - Loss of personal independence in daily activities [Unknown]
  - Arteriosclerosis [Unknown]
  - Therapeutic product effect incomplete [Unknown]
  - Anxiety [Unknown]
  - Eosinophilic granulomatosis with polyangiitis [Unknown]
  - Forced expiratory volume decreased [Unknown]
  - Haemoptysis [Unknown]
  - Hypothyroidism [Unknown]
  - Lung disorder [Unknown]
  - Neuritis [Unknown]
  - Neurological symptom [Unknown]
  - Obstructive airways disorder [Unknown]
  - Pain in extremity [Unknown]
  - Pulmonary alveolar haemorrhage [Unknown]
  - Pulmonary fibrosis [Unknown]
  - Pulmonary vasculitis [Unknown]
  - Respiratory symptom [Unknown]
  - Skin exfoliation [Unknown]
  - Total lung capacity abnormal [Unknown]
  - Vasculitis [Unknown]
